FAERS Safety Report 21508092 (Version 1)
Quarter: 2022Q4

REPORT INFORMATION
  Report Type: Report from Study
  Country: GB (occurrence: GB)
  Receive Date: 20221026
  Receipt Date: 20221026
  Transmission Date: 20230113
  Serious: Yes (Death, Hospitalization, Other)
  Sender: FDA-Public Use
  Company Number: GB-CELGENE-GBR-20181006217

PATIENT
  Age: 74 Year
  Sex: Male

DRUGS (881)
  1. REVLIMID [Suspect]
     Active Substance: LENALIDOMIDE
     Indication: Plasma cell myeloma
     Dosage: 25 MILLIGRAM, QD
     Route: 048
     Dates: start: 20191112, end: 20191202
  2. REVLIMID [Suspect]
     Active Substance: LENALIDOMIDE
     Dosage: 25 MILLIGRAM, QD
     Route: 048
     Dates: start: 20181015, end: 20181104
  3. REVLIMID [Suspect]
     Active Substance: LENALIDOMIDE
     Dosage: 300 MILLIGRAM, QW
     Route: 065
     Dates: start: 20191213, end: 20191231
  4. REVLIMID [Suspect]
     Active Substance: LENALIDOMIDE
     Dosage: 25 MILLIGRAM, OD
     Route: 048
     Dates: start: 20190906, end: 20191010
  5. REVLIMID [Suspect]
     Active Substance: LENALIDOMIDE
     Dosage: 25 MILLIGRAM, QD
     Route: 048
     Dates: start: 20181210, end: 20181231
  6. REVLIMID [Suspect]
     Active Substance: LENALIDOMIDE
     Dosage: 25 MILLIGRAM, QD
     Route: 048
     Dates: start: 20191210
  7. REVLIMID [Suspect]
     Active Substance: LENALIDOMIDE
     Dosage: UNK
     Route: 048
     Dates: start: 20191231
  8. REVLIMID [Suspect]
     Active Substance: LENALIDOMIDE
     Dosage: 25 MILLIGRAM, QD
     Route: 048
     Dates: start: 20190614, end: 20190704
  9. REVLIMID [Suspect]
     Active Substance: LENALIDOMIDE
     Dosage: UNK
     Route: 048
     Dates: start: 20190809
  10. REVLIMID [Suspect]
     Active Substance: LENALIDOMIDE
     Dosage: 300 MILLIGRAM, QW
     Route: 048
     Dates: start: 20191213, end: 20191231
  11. REVLIMID [Suspect]
     Active Substance: LENALIDOMIDE
     Dosage: 4 MILLIGRAM, 1 DOSE WEEKLY
     Route: 065
     Dates: start: 20190629
  12. REVLIMID [Suspect]
     Active Substance: LENALIDOMIDE
     Dosage: 25 MILLIGRAM, QD
     Route: 048
     Dates: start: 20180821, end: 20180909
  13. REVLIMID [Suspect]
     Active Substance: LENALIDOMIDE
     Dosage: 25 MILLIGRAM, QD
     Route: 048
     Dates: start: 20180917, end: 20181007
  14. REVLIMID [Suspect]
     Active Substance: LENALIDOMIDE
     Dosage: 25 MILLIGRAM, OD
     Route: 048
     Dates: start: 20181112, end: 20181202
  15. REVLIMID [Suspect]
     Active Substance: LENALIDOMIDE
     Dosage: 25 MILLIGRAM, QD
     Route: 048
     Dates: start: 20190712, end: 20190801
  16. REVLIMID [Suspect]
     Active Substance: LENALIDOMIDE
     Dosage: 25 MILLIGRAM, OD
     Route: 048
     Dates: start: 20181210, end: 20181231
  17. REVLIMID [Suspect]
     Active Substance: LENALIDOMIDE
     Dosage: 20 MILLIGRAM, QW
     Route: 048
     Dates: start: 20190906, end: 20191228
  18. REVLIMID [Suspect]
     Active Substance: LENALIDOMIDE
     Dosage: 25 MILLIGRAM, AM
     Route: 048
     Dates: start: 20190123
  19. REVLIMID [Suspect]
     Active Substance: LENALIDOMIDE
     Dosage: UNK
     Route: 048
  20. REVLIMID [Suspect]
     Active Substance: LENALIDOMIDE
     Dosage: UNK
     Route: 048
  21. REVLIMID [Suspect]
     Active Substance: LENALIDOMIDE
     Dosage: UNK
     Route: 048
  22. REVLIMID [Suspect]
     Active Substance: LENALIDOMIDE
     Dosage: UNK
     Route: 048
  23. REVLIMID [Suspect]
     Active Substance: LENALIDOMIDE
     Dosage: 25 MILLIGRAM, QD
     Route: 048
     Dates: start: 20191213, end: 20191231
  24. REVLIMID [Suspect]
     Active Substance: LENALIDOMIDE
     Dosage: 4 MILLIGRAM, QW
     Route: 048
     Dates: start: 20190605, end: 20190622
  25. REVLIMID [Suspect]
     Active Substance: LENALIDOMIDE
     Dosage: UNK
     Route: 065
  26. REVLIMID [Suspect]
     Active Substance: LENALIDOMIDE
     Dosage: 4325 MILLIGRAM
     Route: 048
  27. REVLIMID [Suspect]
     Active Substance: LENALIDOMIDE
     Dosage: 25 MILLIGRAM, QD
     Route: 048
     Dates: start: 20181015, end: 20181104
  28. REVLIMID [Suspect]
     Active Substance: LENALIDOMIDE
     Dosage: 300 MILLIGRAM, QW
     Route: 048
     Dates: start: 20191213
  29. REVLIMID [Suspect]
     Active Substance: LENALIDOMIDE
     Dosage: 25 MILLIGRAM, OD
     Route: 048
     Dates: start: 201909
  30. REVLIMID [Suspect]
     Active Substance: LENALIDOMIDE
     Dosage: 4 MILLIGRAM, QW
     Route: 048
     Dates: start: 20190615, end: 20190622
  31. REVLIMID [Suspect]
     Active Substance: LENALIDOMIDE
     Dosage: 25 MILLIGRAM, QD
     Route: 048
     Dates: start: 20190809, end: 20190829
  32. REVLIMID [Suspect]
     Active Substance: LENALIDOMIDE
     Dosage: UNK
     Route: 048
  33. REVLIMID [Suspect]
     Active Substance: LENALIDOMIDE
     Dosage: 20 MILLIGRAM, QW
     Route: 048
     Dates: start: 20190906, end: 20191010
  34. REVLIMID [Suspect]
     Active Substance: LENALIDOMIDE
     Dosage: 20 MILLIGRAM, QW
     Route: 048
     Dates: start: 20180821, end: 20190101
  35. REVLIMID [Suspect]
     Active Substance: LENALIDOMIDE
     Dosage: 25 MILLIGRAM, OD
     Route: 048
     Dates: start: 20190906, end: 20191231
  36. REVLIMID [Suspect]
     Active Substance: LENALIDOMIDE
     Dosage: 20 MILLIGRAM, QW
     Route: 048
     Dates: start: 20180614, end: 20190830
  37. REVLIMID [Suspect]
     Active Substance: LENALIDOMIDE
     Dosage: UNK
     Route: 048
     Dates: start: 20180917
  38. REVLIMID [Suspect]
     Active Substance: LENALIDOMIDE
     Route: 048
  39. REVLIMID [Suspect]
     Active Substance: LENALIDOMIDE
     Route: 048
  40. REVLIMID [Suspect]
     Active Substance: LENALIDOMIDE
     Dosage: 4325 MILLIGRAM;
     Route: 048
  41. REVLIMID [Suspect]
     Active Substance: LENALIDOMIDE
     Route: 048
  42. REVLIMID [Suspect]
     Active Substance: LENALIDOMIDE
     Dosage: 25 MILLIGRAM, QD
     Route: 048
     Dates: start: 20191112, end: 20191202
  43. REVLIMID [Suspect]
     Active Substance: LENALIDOMIDE
     Route: 048
  44. REVLIMID [Suspect]
     Active Substance: LENALIDOMIDE
     Dosage: 25 MILLIGRAM, QD
     Route: 048
     Dates: start: 20191210
  45. REVLIMID [Suspect]
     Active Substance: LENALIDOMIDE
     Dosage: UNK
     Route: 065
  46. REVLIMID [Suspect]
     Active Substance: LENALIDOMIDE
     Dosage: UNK
     Route: 048
  47. REVLIMID [Suspect]
     Active Substance: LENALIDOMIDE
     Dosage: UNK
     Route: 065
     Dates: start: 20181210
  48. REVLIMID [Suspect]
     Active Substance: LENALIDOMIDE
     Dosage: UNK
     Route: 048
  49. REVLIMID [Suspect]
     Active Substance: LENALIDOMIDE
     Dosage: UNK
     Route: 065
  50. REVLIMID [Suspect]
     Active Substance: LENALIDOMIDE
     Dosage: UNK
     Route: 048
  51. REVLIMID [Suspect]
     Active Substance: LENALIDOMIDE
     Dosage: UNK
     Route: 048
  52. REVLIMID [Suspect]
     Active Substance: LENALIDOMIDE
     Dosage: UNK
     Route: 065
  53. REVLIMID [Suspect]
     Active Substance: LENALIDOMIDE
     Dosage: UNK
     Route: 048
  54. REVLIMID [Suspect]
     Active Substance: LENALIDOMIDE
     Dosage: UNK
     Route: 065
  55. REVLIMID [Suspect]
     Active Substance: LENALIDOMIDE
     Dosage: UNK
     Route: 048
  56. REVLIMID [Suspect]
     Active Substance: LENALIDOMIDE
     Dosage: UNK
     Route: 048
  57. REVLIMID [Suspect]
     Active Substance: LENALIDOMIDE
     Dosage: UNK
     Route: 048
  58. REVLIMID [Suspect]
     Active Substance: LENALIDOMIDE
     Dosage: UNK
     Route: 048
  59. REVLIMID [Suspect]
     Active Substance: LENALIDOMIDE
     Dosage: UNK
     Route: 048
  60. REVLIMID [Suspect]
     Active Substance: LENALIDOMIDE
     Dosage: UNK
     Route: 048
  61. REVLIMID [Suspect]
     Active Substance: LENALIDOMIDE
     Dosage: UNK
     Route: 048
  62. REVLIMID [Suspect]
     Active Substance: LENALIDOMIDE
     Dosage: UNK
     Route: 065
  63. REVLIMID [Suspect]
     Active Substance: LENALIDOMIDE
     Dosage: UNK
     Route: 065
  64. REVLIMID [Suspect]
     Active Substance: LENALIDOMIDE
     Dosage: UNK
     Route: 048
  65. REVLIMID [Suspect]
     Active Substance: LENALIDOMIDE
     Dosage: UNK
     Route: 048
  66. REVLIMID [Suspect]
     Active Substance: LENALIDOMIDE
     Dosage: UNK
     Route: 065
  67. REVLIMID [Suspect]
     Active Substance: LENALIDOMIDE
     Dosage: UNK
     Route: 065
  68. REVLIMID [Suspect]
     Active Substance: LENALIDOMIDE
     Dosage: UNK
     Route: 048
  69. REVLIMID [Suspect]
     Active Substance: LENALIDOMIDE
     Dosage: UNK
     Route: 048
  70. REVLIMID [Suspect]
     Active Substance: LENALIDOMIDE
     Dosage: UNK
     Route: 048
  71. REVLIMID [Suspect]
     Active Substance: LENALIDOMIDE
     Dosage: UNK
     Route: 048
  72. REVLIMID [Suspect]
     Active Substance: LENALIDOMIDE
     Dosage: UNK
     Route: 048
  73. REVLIMID [Suspect]
     Active Substance: LENALIDOMIDE
     Dosage: UNK
     Route: 048
  74. REVLIMID [Suspect]
     Active Substance: LENALIDOMIDE
     Dosage: UNK
     Route: 048
  75. REVLIMID [Suspect]
     Active Substance: LENALIDOMIDE
     Dosage: UNK
     Route: 065
  76. REVLIMID [Suspect]
     Active Substance: LENALIDOMIDE
     Dosage: UNK
     Route: 065
  77. REVLIMID [Suspect]
     Active Substance: LENALIDOMIDE
     Dosage: UNK
     Route: 048
  78. REVLIMID [Suspect]
     Active Substance: LENALIDOMIDE
     Dosage: UNK
     Route: 048
  79. REVLIMID [Suspect]
     Active Substance: LENALIDOMIDE
     Dosage: UNK
     Route: 048
  80. REVLIMID [Suspect]
     Active Substance: LENALIDOMIDE
     Dosage: UNK;
     Route: 048
  81. REVLIMID [Suspect]
     Active Substance: LENALIDOMIDE
     Dosage: UNK; ;
     Route: 048
  82. REVLIMID [Suspect]
     Active Substance: LENALIDOMIDE
     Dosage: UNK; ;
     Route: 048
  83. REVLIMID [Suspect]
     Active Substance: LENALIDOMIDE
     Dosage: UNK; ;
     Route: 048
  84. REVLIMID [Suspect]
     Active Substance: LENALIDOMIDE
     Dosage: UNK
     Route: 065
  85. REVLIMID [Suspect]
     Active Substance: LENALIDOMIDE
     Dosage: UNK
     Route: 048
  86. REVLIMID [Suspect]
     Active Substance: LENALIDOMIDE
     Dosage: UNK
     Route: 048
  87. REVLIMID [Suspect]
     Active Substance: LENALIDOMIDE
     Dosage: UNK
     Route: 048
  88. REVLIMID [Suspect]
     Active Substance: LENALIDOMIDE
     Dosage: UNK
     Route: 048
  89. REVLIMID [Suspect]
     Active Substance: LENALIDOMIDE
     Dosage: UNK
     Route: 065
  90. REVLIMID [Suspect]
     Active Substance: LENALIDOMIDE
     Dosage: 4325 MILLIGRAM
  91. REVLIMID [Suspect]
     Active Substance: LENALIDOMIDE
     Dosage: UNK
  92. REVLIMID [Suspect]
     Active Substance: LENALIDOMIDE
     Dosage: UNK
  93. REVLIMID [Suspect]
     Active Substance: LENALIDOMIDE
     Dosage: 15 MILLIGRAM, QD
     Route: 065
  94. REVLIMID [Suspect]
     Active Substance: LENALIDOMIDE
     Dosage: UNK; ;
     Route: 048
  95. REVLIMID [Suspect]
     Active Substance: LENALIDOMIDE
     Dosage: UNK; ;
     Route: 048
  96. REVLIMID [Suspect]
     Active Substance: LENALIDOMIDE
     Dosage: UNK; ;
     Route: 048
  97. REVLIMID [Suspect]
     Active Substance: LENALIDOMIDE
     Dosage: 15 MILLIGRAM, QD
     Route: 065
  98. REVLIMID [Suspect]
     Active Substance: LENALIDOMIDE
     Dosage: UNK; ;
     Route: 048
  99. REVLIMID [Suspect]
     Active Substance: LENALIDOMIDE
     Dosage: UNK; ;
     Route: 048
  100. REVLIMID [Suspect]
     Active Substance: LENALIDOMIDE
     Dosage: UNK
     Route: 048
  101. REVLIMID [Suspect]
     Active Substance: LENALIDOMIDE
     Dosage: UNK
     Route: 048
  102. REVLIMID [Suspect]
     Active Substance: LENALIDOMIDE
     Dosage: UNK
     Route: 065
  103. REVLIMID [Suspect]
     Active Substance: LENALIDOMIDE
     Dosage: UNK
     Route: 048
  104. REVLIMID [Suspect]
     Active Substance: LENALIDOMIDE
     Dosage: 25 MILLIGRAM, 1 DOSE WEEKLY
     Route: 048
     Dates: start: 20190614, end: 20190704
  105. REVLIMID [Suspect]
     Active Substance: LENALIDOMIDE
     Dosage: 25 MILLIGRAM, QD
     Route: 048
     Dates: start: 20191213
  106. REVLIMID [Suspect]
     Active Substance: LENALIDOMIDE
     Dosage: 20 MILLIGRAM, QW
     Route: 048
     Dates: start: 20191213, end: 20191228
  107. REVLIMID [Suspect]
     Active Substance: LENALIDOMIDE
     Dosage: 25 MILLIGRAM
     Route: 048
     Dates: start: 20190123
  108. REVLIMID [Suspect]
     Active Substance: LENALIDOMIDE
     Dosage: 25 MILLIGRAM, QD
     Route: 048
     Dates: start: 20190123
  109. REVLIMID [Suspect]
     Active Substance: LENALIDOMIDE
     Dosage: 25 MILLIGRAM, QD
     Route: 048
     Dates: start: 20191213, end: 20191231
  110. REVLIMID [Suspect]
     Active Substance: LENALIDOMIDE
     Dosage: UNK
     Route: 065
  111. REVLIMID [Suspect]
     Active Substance: LENALIDOMIDE
     Dosage: UNK
     Route: 048
  112. REVLIMID [Suspect]
     Active Substance: LENALIDOMIDE
     Dosage: 300 MILLIGRAM, QW
     Route: 065
     Dates: start: 20191213
  113. DEXAMETHASONE [Suspect]
     Active Substance: DEXAMETHASONE
     Indication: Plasma cell myeloma
     Dosage: 20 MILLIGRAM, QW
     Route: 048
     Dates: start: 20180917, end: 20181007
  114. DEXAMETHASONE [Suspect]
     Active Substance: DEXAMETHASONE
     Dosage: 20 MILLIGRAM, QW
     Route: 048
     Dates: start: 20180821, end: 20190101
  115. DEXAMETHASONE [Suspect]
     Active Substance: DEXAMETHASONE
     Dosage: 20 MILLIGRAM, QW
     Route: 048
     Dates: start: 20191213, end: 20191228
  116. DEXAMETHASONE [Suspect]
     Active Substance: DEXAMETHASONE
     Dosage: UNK
     Route: 048
     Dates: start: 20190809
  117. DEXAMETHASONE [Suspect]
     Active Substance: DEXAMETHASONE
     Dosage: 20 MILLIGRAM, QW
     Route: 048
     Dates: start: 20190906, end: 20191010
  118. DEXAMETHASONE [Suspect]
     Active Substance: DEXAMETHASONE
     Dosage: 20 MILLIGRAM, QW
     Route: 048
     Dates: start: 20190906, end: 20191228
  119. DEXAMETHASONE [Suspect]
     Active Substance: DEXAMETHASONE
     Dosage: 20 MILLIGRAM, QW
     Route: 048
     Dates: start: 20190614, end: 20190830
  120. DEXAMETHASONE [Suspect]
     Active Substance: DEXAMETHASONE
     Dosage: UNK
     Route: 065
     Dates: start: 20181112
  121. DEXAMETHASONE [Suspect]
     Active Substance: DEXAMETHASONE
     Dosage: UNK
     Route: 065
     Dates: start: 20181210
  122. DEXAMETHASONE [Suspect]
     Active Substance: DEXAMETHASONE
     Dosage: UNK
     Route: 048
     Dates: start: 20181015
  123. DEXAMETHASONE [Suspect]
     Active Substance: DEXAMETHASONE
     Dosage: 20 MILLIGRAM, QW
     Route: 048
     Dates: start: 20181016, end: 20181105
  124. DEXAMETHASONE [Suspect]
     Active Substance: DEXAMETHASONE
     Dosage: 20 MILLIGRAM
     Route: 048
     Dates: start: 20181113, end: 20181203
  125. DEXAMETHASONE [Suspect]
     Active Substance: DEXAMETHASONE
     Dosage: 20 MILLIGRAM, QW
     Route: 048
     Dates: start: 20181211, end: 20190101
  126. DEXAMETHASONE [Suspect]
     Active Substance: DEXAMETHASONE
     Dosage: 20 MILLIGRAM
     Route: 048
     Dates: start: 20190123
  127. DEXAMETHASONE [Suspect]
     Active Substance: DEXAMETHASONE
     Dosage: UNK
     Route: 048
  128. DEXAMETHASONE [Suspect]
     Active Substance: DEXAMETHASONE
     Dosage: 20 MILLIGRAM
     Route: 048
     Dates: start: 20180917, end: 20181007
  129. DEXAMETHASONE [Suspect]
     Active Substance: DEXAMETHASONE
     Dosage: 20 MILLIGRAM, QW
     Route: 048
     Dates: start: 20191228
  130. DEXAMETHASONE [Suspect]
     Active Substance: DEXAMETHASONE
     Dosage: UNK
     Route: 048
  131. DEXAMETHASONE [Suspect]
     Active Substance: DEXAMETHASONE
     Dosage: 20 MILLIGRAM, 1/WEEK
     Route: 048
     Dates: start: 20190614, end: 20190830
  132. DEXAMETHASONE [Suspect]
     Active Substance: DEXAMETHASONE
     Dosage: UNK
     Route: 048
     Dates: start: 20181010
  133. DEXAMETHASONE [Suspect]
     Active Substance: DEXAMETHASONE
     Dosage: UNK
     Route: 065
     Dates: start: 20190809
  134. DEXAMETHASONE [Suspect]
     Active Substance: DEXAMETHASONE
     Dosage: 20 MILLIGRAM, QW
     Route: 048
     Dates: start: 20191006, end: 20191010
  135. DEXAMETHASONE [Suspect]
     Active Substance: DEXAMETHASONE
     Dosage: UNK
     Route: 065
     Dates: start: 20190829
  136. DEXAMETHASONE [Suspect]
     Active Substance: DEXAMETHASONE
     Dosage: UNK; ;
     Route: 048
  137. DEXAMETHASONE [Suspect]
     Active Substance: DEXAMETHASONE
     Dosage: UNK
     Route: 048
  138. DEXAMETHASONE [Suspect]
     Active Substance: DEXAMETHASONE
     Dosage: UNK
     Route: 048
  139. DEXAMETHASONE [Suspect]
     Active Substance: DEXAMETHASONE
     Dosage: UNK
     Route: 065
  140. DEXAMETHASONE [Suspect]
     Active Substance: DEXAMETHASONE
     Dosage: UNK
     Route: 048
  141. DEXAMETHASONE [Suspect]
     Active Substance: DEXAMETHASONE
     Dosage: UNK
     Route: 065
     Dates: start: 20181015
  142. DEXAMETHASONE [Suspect]
     Active Substance: DEXAMETHASONE
     Dosage: UNK
     Route: 048
     Dates: start: 20181210
  143. DEXAMETHASONE [Suspect]
     Active Substance: DEXAMETHASONE
     Dosage: UNK
     Route: 048
     Dates: start: 20181015
  144. DEXAMETHASONE [Suspect]
     Active Substance: DEXAMETHASONE
     Dosage: UNK
     Route: 048
     Dates: start: 20181112
  145. DEXAMETHASONE [Suspect]
     Active Substance: DEXAMETHASONE
     Dosage: UNK
     Route: 065
  146. DEXAMETHASONE [Suspect]
     Active Substance: DEXAMETHASONE
     Dosage: UNK
     Route: 048
  147. DEXAMETHASONE [Suspect]
     Active Substance: DEXAMETHASONE
     Dosage: UNK
     Route: 065
  148. DEXAMETHASONE [Suspect]
     Active Substance: DEXAMETHASONE
     Dosage: 20 MILLIGRAM, 1/WEEK
     Dates: start: 20190906, end: 20191010
  149. DEXAMETHASONE [Suspect]
     Active Substance: DEXAMETHASONE
     Dosage: 20 MILLIGRAM, QW
     Route: 048
     Dates: start: 20190906, end: 20191228
  150. DEXAMETHASONE [Suspect]
     Active Substance: DEXAMETHASONE
     Dosage: UNK
     Route: 048
  151. DEXAMETHASONE [Suspect]
     Active Substance: DEXAMETHASONE
     Dosage: UNK
     Route: 065
  152. DEXAMETHASONE [Suspect]
     Active Substance: DEXAMETHASONE
     Dosage: UNK
     Route: 048
  153. DEXAMETHASONE [Suspect]
     Active Substance: DEXAMETHASONE
     Dosage: UNK
     Route: 065
  154. DEXAMETHASONE [Suspect]
     Active Substance: DEXAMETHASONE
     Dosage: UNK
     Route: 048
  155. DEXAMETHASONE [Suspect]
     Active Substance: DEXAMETHASONE
     Dosage: UNK
     Route: 048
  156. DEXAMETHASONE [Suspect]
     Active Substance: DEXAMETHASONE
     Route: 065
  157. DEXAMETHASONE [Suspect]
     Active Substance: DEXAMETHASONE
     Route: 048
  158. DEXAMETHASONE [Suspect]
     Active Substance: DEXAMETHASONE
     Dosage: UNK
     Route: 065
  159. DEXAMETHASONE [Suspect]
     Active Substance: DEXAMETHASONE
     Route: 048
  160. DEXAMETHASONE [Suspect]
     Active Substance: DEXAMETHASONE
     Route: 065
  161. DEXAMETHASONE [Suspect]
     Active Substance: DEXAMETHASONE
     Route: 065
  162. DEXAMETHASONE [Suspect]
     Active Substance: DEXAMETHASONE
     Route: 065
  163. DEXAMETHASONE [Suspect]
     Active Substance: DEXAMETHASONE
     Route: 048
  164. DEXAMETHASONE [Suspect]
     Active Substance: DEXAMETHASONE
     Dosage: 20 MILLIGRAM, QW
     Route: 065
  165. DEXAMETHASONE [Suspect]
     Active Substance: DEXAMETHASONE
     Dosage: 20 MILLIGRAM, QW
     Route: 048
     Dates: start: 20180821, end: 20190101
  166. DEXAMETHASONE [Suspect]
     Active Substance: DEXAMETHASONE
     Dosage: UNK
     Route: 065
  167. DEXAMETHASONE [Suspect]
     Active Substance: DEXAMETHASONE
     Dosage: 20 MILLIGRAM, QW
     Route: 048
     Dates: start: 20181113, end: 20181203
  168. DEXAMETHASONE [Suspect]
     Active Substance: DEXAMETHASONE
     Dosage: UNK
     Route: 048
     Dates: start: 20180917
  169. DEXAMETHASONE [Suspect]
     Active Substance: DEXAMETHASONE
     Dosage: UNK
     Route: 048
  170. DEXAMETHASONE [Suspect]
     Active Substance: DEXAMETHASONE
     Dosage: UNK
     Route: 048
  171. DEXAMETHASONE [Suspect]
     Active Substance: DEXAMETHASONE
     Dosage: 20 MILLIGRAM, QW
     Route: 048
     Dates: start: 20190123
  172. DEXAMETHASONE [Suspect]
     Active Substance: DEXAMETHASONE
     Dosage: 20 MILLIGRAM
     Route: 048
     Dates: start: 20181211, end: 20190101
  173. AZACITIDINE [Suspect]
     Active Substance: AZACITIDINE
     Indication: Product used for unknown indication
     Route: 065
  174. IXAZOMIB [Suspect]
     Active Substance: IXAZOMIB
     Indication: Plasma cell myeloma
     Dosage: 4 MILLIGRAM, QW (ADDITIONAL INFO: COVID 19)
     Route: 048
     Dates: start: 20190615, end: 20191226
  175. IXAZOMIB [Suspect]
     Active Substance: IXAZOMIB
     Dosage: 4 MILLIGRAM
     Route: 048
     Dates: start: 20190629, end: 20190713
  176. IXAZOMIB [Suspect]
     Active Substance: IXAZOMIB
     Dosage: 4 MILLIGRAM
     Route: 065
     Dates: start: 20190615, end: 20190615
  177. IXAZOMIB [Suspect]
     Active Substance: IXAZOMIB
     Dosage: 4 MILLIGRAM, QW
     Route: 048
     Dates: start: 20190615, end: 20190615
  178. IXAZOMIB [Suspect]
     Active Substance: IXAZOMIB
     Dosage: 4 MILLIGRAM, QW
     Route: 048
     Dates: start: 20190620, end: 20190802
  179. IXAZOMIB [Suspect]
     Active Substance: IXAZOMIB
     Dosage: 4 MILLIGRAM, QD
     Route: 048
     Dates: start: 20190615, end: 20190619
  180. IXAZOMIB [Suspect]
     Active Substance: IXAZOMIB
     Dosage: 4 MILLIGRAM
     Route: 048
     Dates: start: 20190810, end: 20190824
  181. IXAZOMIB [Suspect]
     Active Substance: IXAZOMIB
     Dosage: 4 MILLIGRAM, QW (ADDITIONAL INFO: COVID 19)
     Route: 048
     Dates: start: 20191213, end: 20191226
  182. IXAZOMIB [Suspect]
     Active Substance: IXAZOMIB
     Dosage: 800 MILLIGRAM (ADDITIONAL INFO: COVID 19)
     Route: 048
     Dates: start: 20191231
  183. IXAZOMIB [Suspect]
     Active Substance: IXAZOMIB
     Dosage: 4 MILLIGRAM
     Route: 048
     Dates: start: 20190803, end: 20190809
  184. IXAZOMIB [Suspect]
     Active Substance: IXAZOMIB
     Dosage: 47.5 MILLIGRAM, QW (ADDITIONAL INFO: COVID 19)
     Route: 048
     Dates: start: 20190615
  185. IXAZOMIB [Suspect]
     Active Substance: IXAZOMIB
     Dosage: UNK
     Route: 048
  186. IXAZOMIB [Suspect]
     Active Substance: IXAZOMIB
     Dosage: 4 MILLIGRAM, 1/WEEK
     Route: 048
  187. IXAZOMIB [Suspect]
     Active Substance: IXAZOMIB
     Dosage: 4 MILLIGRAM, 1/WEEK
     Route: 048
     Dates: start: 201907
  188. IXAZOMIB [Suspect]
     Active Substance: IXAZOMIB
     Dosage: 4 MG, 1X A WEEK
     Route: 048
     Dates: start: 201906, end: 20190802
  189. IXAZOMIB [Suspect]
     Active Substance: IXAZOMIB
     Dosage: 800 MILLIGRAM (ADDITIONAL INFO: COVID 19)
     Route: 048
  190. IXAZOMIB [Suspect]
     Active Substance: IXAZOMIB
     Dosage: UNK
     Route: 048
  191. IXAZOMIB [Suspect]
     Active Substance: IXAZOMIB
     Dosage: 47.5 MILLIGRAM, QW
     Route: 048
  192. IXAZOMIB [Suspect]
     Active Substance: IXAZOMIB
     Dosage: 4 MILLIGRAM, QW
     Route: 048
  193. IXAZOMIB [Suspect]
     Active Substance: IXAZOMIB
     Dosage: 4 MILLIGRAM, QW (ADDITIONAL INFO: COVID 19)
     Route: 048
     Dates: start: 20190810, end: 20190824
  194. IXAZOMIB [Suspect]
     Active Substance: IXAZOMIB
     Dosage: 800 MILLIGRAM (ADDITIONAL INFO: COVID 19)
     Route: 048
     Dates: start: 20191231
  195. IXAZOMIB [Suspect]
     Active Substance: IXAZOMIB
     Dosage: 4 MILLIGRAM, QW (ADDITIONAL INFO: COVID 19)
     Route: 048
  196. IXAZOMIB [Suspect]
     Active Substance: IXAZOMIB
     Dosage: 4 MILLIGRAM, QW (ADDITIONAL INFO: COVID 19)
     Route: 048
     Dates: start: 20190615, end: 20190615
  197. IXAZOMIB [Suspect]
     Active Substance: IXAZOMIB
     Dosage: 4 MILLIGRAM, QW (ADDITIONAL INFO: COVID 19)
     Route: 048
     Dates: start: 20190615, end: 20190622
  198. IXAZOMIB [Suspect]
     Active Substance: IXAZOMIB
     Dosage: 4 MILLIGRAM, QW (ADDITIONAL INFO: COVID 19)
     Route: 048
     Dates: start: 20190615, end: 20190619
  199. IXAZOMIB [Suspect]
     Active Substance: IXAZOMIB
     Dosage: 4 MILLIGRAM, QW (ADDITIONAL INFO: COVID 19)
     Route: 048
     Dates: start: 20190803, end: 20190809
  200. IXAZOMIB [Suspect]
     Active Substance: IXAZOMIB
     Dosage: 800 MILLIGRAM (ADDITIONAL INFO: COVID 19)
     Route: 065
  201. IXAZOMIB [Suspect]
     Active Substance: IXAZOMIB
     Dosage: UNK
     Route: 048
     Dates: start: 20191231
  202. IXAZOMIB [Suspect]
     Active Substance: IXAZOMIB
     Dosage: UNK
     Route: 065
     Dates: start: 20191231
  203. IXAZOMIB [Suspect]
     Active Substance: IXAZOMIB
     Dosage: 4 MILLIGRAM, QW
     Route: 048
     Dates: start: 20190615, end: 20190622
  204. IXAZOMIB [Suspect]
     Active Substance: IXAZOMIB
     Dosage: 20 MILLIGRAM, QW
     Route: 048
     Dates: start: 20191213, end: 20191228
  205. IXAZOMIB [Suspect]
     Active Substance: IXAZOMIB
     Dosage: UNK
     Route: 065
  206. IXAZOMIB [Suspect]
     Active Substance: IXAZOMIB
     Dosage: 4 MILLIGRAM, QW (ADDITIONAL INFO: COVID 19)
     Route: 048
     Dates: start: 20190620, end: 20190802
  207. IXAZOMIB [Suspect]
     Active Substance: IXAZOMIB
     Dosage: 4 MILLIGRAM, QW (ADDITIONAL INFO: COVID 19)
     Route: 048
     Dates: start: 20190629, end: 20190713
  208. IXAZOMIB [Suspect]
     Active Substance: IXAZOMIB
     Dosage: 4 MILLIGRAM, QW
     Route: 048
     Dates: start: 20190629, end: 20190713
  209. IXAZOMIB [Suspect]
     Active Substance: IXAZOMIB
     Dosage: 800 MILLIGRAM (ADDITIONAL INFO: COVID 19)
     Route: 048
  210. IXAZOMIB [Suspect]
     Active Substance: IXAZOMIB
     Dosage: 4 MILLIGRAM, QW
     Route: 048
     Dates: start: 20190620, end: 20190802
  211. IXAZOMIB [Suspect]
     Active Substance: IXAZOMIB
     Dosage: 4 MILLIGRAM, QW
     Route: 048
     Dates: start: 20190803, end: 20190809
  212. IXAZOMIB [Suspect]
     Active Substance: IXAZOMIB
     Dosage: 800 MILLIGRAM (ADDITIONAL INFO: COVID 19)
     Route: 065
  213. IXAZOMIB [Suspect]
     Active Substance: IXAZOMIB
     Dosage: UNK
     Route: 065
  214. NINLARO [Suspect]
     Active Substance: IXAZOMIB CITRATE
     Indication: Plasma cell myeloma
     Dosage: 20 MILLIGRAM, QW
     Route: 048
     Dates: start: 20191213, end: 20191228
  215. NINLARO [Suspect]
     Active Substance: IXAZOMIB CITRATE
     Dosage: 2.3 MILLIGRAM, 1/WEEK
     Route: 065
  216. NINLARO [Suspect]
     Active Substance: IXAZOMIB CITRATE
     Dosage: 4 MILLIGRAM;
     Route: 065
  217. NINLARO [Suspect]
     Active Substance: IXAZOMIB CITRATE
     Dosage: 2.3 MILLIGRAM, 1/WEEK
     Route: 065
  218. NINLARO [Suspect]
     Active Substance: IXAZOMIB CITRATE
     Dosage: 4 MILLIGRAM;
     Route: 048
  219. NINLARO [Suspect]
     Active Substance: IXAZOMIB CITRATE
     Dosage: 4 MILLIGRAM, QW
     Route: 048
  220. NINLARO [Suspect]
     Active Substance: IXAZOMIB CITRATE
     Dosage: 800 MILLIGRAM
     Route: 048
     Dates: start: 20191231
  221. NINLARO [Suspect]
     Active Substance: IXAZOMIB CITRATE
     Dosage: 4 MILLIGRAM, QD
     Route: 048
     Dates: start: 20190615, end: 20190619
  222. NINLARO [Suspect]
     Active Substance: IXAZOMIB CITRATE
     Dosage: 4 MILLIGRAM, QW
     Route: 048
     Dates: start: 20190615, end: 20190622
  223. NINLARO [Suspect]
     Active Substance: IXAZOMIB CITRATE
     Dosage: 4 MILLIGRAM, QW
     Route: 048
     Dates: start: 20190810, end: 20190824
  224. NINLARO [Suspect]
     Active Substance: IXAZOMIB CITRATE
     Dosage: 4 MILLIGRAM, QW
     Route: 048
     Dates: start: 20190803, end: 20190809
  225. NINLARO [Suspect]
     Active Substance: IXAZOMIB CITRATE
     Dosage: 4 MILLIGRAM, QW
     Route: 048
     Dates: start: 20190615, end: 20190615
  226. NINLARO [Suspect]
     Active Substance: IXAZOMIB CITRATE
     Dosage: 4 MILLIGRAM, QW
     Route: 048
     Dates: start: 20190620, end: 20190802
  227. NINLARO [Suspect]
     Active Substance: IXAZOMIB CITRATE
     Dosage: 800 MILLIGRAM
     Route: 048
  228. NINLARO [Suspect]
     Active Substance: IXAZOMIB CITRATE
     Dosage: 4 MILLIGRAM, QW
     Route: 048
     Dates: start: 20190615, end: 20191226
  229. NINLARO [Suspect]
     Active Substance: IXAZOMIB CITRATE
     Dosage: 4 MILLIGRAM, QW
     Route: 048
     Dates: start: 20191213, end: 20191226
  230. NINLARO [Suspect]
     Active Substance: IXAZOMIB CITRATE
     Dosage: 47.5 MILLIGRAM, QW
     Route: 048
  231. NINLARO [Suspect]
     Active Substance: IXAZOMIB CITRATE
     Dosage: 4 MILLIGRAM, QW
     Route: 048
     Dates: start: 20190629, end: 20190713
  232. VENETOCLAX [Suspect]
     Active Substance: VENETOCLAX
     Indication: Product used for unknown indication
     Route: 065
  233. CYCLOPHOSPHAMIDE [Suspect]
     Active Substance: CYCLOPHOSPHAMIDE
     Indication: Plasma cell myeloma
     Route: 048
     Dates: start: 20190907
  234. CYCLOPHOSPHAMIDE [Suspect]
     Active Substance: CYCLOPHOSPHAMIDE
     Route: 048
     Dates: start: 201909, end: 20191010
  235. CYCLOPHOSPHAMIDE [Suspect]
     Active Substance: CYCLOPHOSPHAMIDE
     Route: 048
     Dates: start: 201910
  236. CYCLOPHOSPHAMIDE [Suspect]
     Active Substance: CYCLOPHOSPHAMIDE
     Route: 048
     Dates: start: 20191213
  237. CYCLOPHOSPHAMIDE [Suspect]
     Active Substance: CYCLOPHOSPHAMIDE
     Route: 048
  238. CYCLOPHOSPHAMIDE [Suspect]
     Active Substance: CYCLOPHOSPHAMIDE
     Route: 048
     Dates: end: 20191213
  239. CYCLOPHOSPHAMIDE [Suspect]
     Active Substance: CYCLOPHOSPHAMIDE
     Route: 048
     Dates: end: 201912
  240. CYCLOPHOSPHAMIDE [Suspect]
     Active Substance: CYCLOPHOSPHAMIDE
     Route: 048
     Dates: end: 201912
  241. CYCLOPHOSPHAMIDE [Suspect]
     Active Substance: CYCLOPHOSPHAMIDE
     Route: 048
     Dates: end: 201912
  242. CYCLOPHOSPHAMIDE [Suspect]
     Active Substance: CYCLOPHOSPHAMIDE
     Route: 048
     Dates: start: 201912, end: 20191228
  243. CYCLOPHOSPHAMIDE [Suspect]
     Active Substance: CYCLOPHOSPHAMIDE
     Route: 048
     Dates: end: 201912
  244. MEGACE [Concomitant]
     Active Substance: MEGESTROL ACETATE
     Indication: Malnutrition
     Dosage: 7.5 MILLILITER, BID
     Route: 048
     Dates: start: 20191011
  245. MEGACE [Concomitant]
     Active Substance: MEGESTROL ACETATE
     Dosage: 15 ML, QD
     Route: 048
     Dates: start: 20191019
  246. MEGACE [Concomitant]
     Active Substance: MEGESTROL ACETATE
     Dosage: 15 MILLILITER, QD, 15 ML, QD
     Route: 048
     Dates: start: 20191011
  247. MEGACE [Concomitant]
     Active Substance: MEGESTROL ACETATE
     Dosage: 7.5 MILLILITER, BID
     Route: 048
     Dates: start: 20191011
  248. BUDESONIDE [Concomitant]
     Active Substance: BUDESONIDE
     Indication: Chronic obstructive pulmonary disease
     Dosage: 1 MILLIGRAM, QD
     Route: 048
     Dates: start: 20200107
  249. BUDESONIDE [Concomitant]
     Active Substance: BUDESONIDE
     Indication: Chronic obstructive pulmonary disease
  250. FORTAL [PENTAZOCINE LACTATE] [Concomitant]
     Indication: Malnutrition
     Dosage: UNK UNK, QD
     Route: 048
     Dates: start: 20191020, end: 20191029
  251. FORTAL [PENTAZOCINE LACTATE] [Concomitant]
     Dosage: UNK UNK, BID, QD
     Route: 048
     Dates: start: 20191003, end: 20191011
  252. VITAMINS NOS [Concomitant]
     Active Substance: VITAMINS
     Indication: Malnutrition
     Dosage: UNK UNK, QD
     Route: 048
     Dates: start: 20190104
  253. VITAMINS NOS [Concomitant]
     Active Substance: VITAMINS
     Indication: Prophylaxis
     Dosage: UNK UNK, QD
     Route: 065
     Dates: start: 20190102, end: 20190129
  254. VITAMINS NOS [Concomitant]
     Active Substance: VITAMINS
     Dosage: UNK UNK, QD
     Route: 048
     Dates: start: 20190103, end: 20191111
  255. CALCITONIN [Concomitant]
     Active Substance: CALCITONIN
     Indication: Malnutrition
     Dosage: UNK, BID
     Route: 048
     Dates: start: 20190103, end: 20191011
  256. CALCITONIN [Concomitant]
     Active Substance: CALCITONIN
     Dosage: UNK
     Route: 065
  257. CALCITONIN [Concomitant]
     Active Substance: CALCITONIN
     Dosage: UNK UNK, BID;
     Route: 048
     Dates: start: 20190130, end: 20191011
  258. CALCITONIN [Concomitant]
     Active Substance: CALCITONIN
     Dosage: UNK; ;
     Route: 065
  259. CALCITONIN [Concomitant]
     Active Substance: CALCITONIN
     Dosage: UNK
     Route: 065
  260. CALCITONIN [Concomitant]
     Active Substance: CALCITONIN
     Dosage: UNK
     Route: 065
  261. CALCITONIN [Concomitant]
     Active Substance: CALCITONIN
     Dosage: UNK
     Route: 065
  262. CALCITONIN [Concomitant]
     Active Substance: CALCITONIN
     Dosage: UNK
     Route: 065
  263. CALCITONIN [Concomitant]
     Active Substance: CALCITONIN
     Dosage: UNK
     Route: 065
  264. CALCITONIN [Concomitant]
     Active Substance: CALCITONIN
     Dosage: UNK
     Route: 065
  265. CALCITONIN [Concomitant]
     Active Substance: CALCITONIN
     Dosage: UNK
     Route: 065
  266. CALCITONIN [Concomitant]
     Active Substance: CALCITONIN
     Dosage: UNK; ;
     Route: 065
  267. FOLIC ACID [Concomitant]
     Active Substance: FOLIC ACID
     Indication: Anaemia
     Dosage: 5 MILLIGRAM, QD
     Route: 048
  268. FOLIC ACID [Concomitant]
     Active Substance: FOLIC ACID
     Indication: Product used for unknown indication
     Dosage: 5 MILLIGRAM, QD
     Route: 048
  269. FOLIC ACID [Concomitant]
     Active Substance: FOLIC ACID
     Indication: Anaemia
     Dosage: 5 MILLIGRAM, QD
     Route: 048
  270. FOLIC ACID [Concomitant]
     Active Substance: FOLIC ACID
     Dosage: 5 MILLIGRAM
     Route: 048
  271. FOLIC ACID [Concomitant]
     Active Substance: FOLIC ACID
     Dosage: 5 MILLIGRAM, QD
     Route: 048
  272. FOLIC ACID [Concomitant]
     Active Substance: FOLIC ACID
     Dosage: 5 MG, QD
     Route: 048
  273. FOLIC ACID [Concomitant]
     Active Substance: FOLIC ACID
     Dosage: 5 MILLIGRAM, QD
     Route: 048
  274. FOLIC ACID [Concomitant]
     Active Substance: FOLIC ACID
     Dosage: 5 MILLIGRAM, QD
     Route: 048
  275. FOLIC ACID [Concomitant]
     Active Substance: FOLIC ACID
     Dosage: 5 MILLIGRAM
  276. FOLIC ACID [Concomitant]
     Active Substance: FOLIC ACID
     Dosage: 5 MILLIGRAM
  277. FOLIC ACID [Concomitant]
     Active Substance: FOLIC ACID
     Dosage: 5 MILLIGRAM, QD
  278. FOLIC ACID [Concomitant]
     Active Substance: FOLIC ACID
     Dosage: 5 MILLIGRAM, QD
  279. FOLIC ACID [Concomitant]
     Active Substance: FOLIC ACID
     Dosage: 5 MILLIGRAM
     Route: 048
  280. FOLIC ACID [Concomitant]
     Active Substance: FOLIC ACID
     Dosage: 5 MILLIGRAM, QD
     Route: 048
  281. FOLIC ACID [Concomitant]
     Active Substance: FOLIC ACID
     Dosage: 5 MILLIGRAM
     Route: 048
  282. FOLIC ACID [Concomitant]
     Active Substance: FOLIC ACID
     Dosage: 5 MILLIGRAM
     Route: 048
  283. FOLIC ACID [Concomitant]
     Active Substance: FOLIC ACID
     Dosage: 5 MILLIGRAM, QD
     Route: 048
  284. FOLIC ACID [Concomitant]
     Active Substance: FOLIC ACID
     Dosage: 5 MILLIGRAM, QD
     Route: 048
  285. FOLIC ACID [Concomitant]
     Active Substance: FOLIC ACID
     Dosage: 5 MILLIGRAM, QD
     Route: 048
  286. TRIPTORELIN [Concomitant]
     Active Substance: TRIPTORELIN
     Indication: Prostate cancer
     Dosage: 11.25 MG, Q12MO (11.25 MILLIGRAM, QID, 11.25 MG, QID)
     Route: 065
     Dates: start: 20190515
  287. TRIPTORELIN [Concomitant]
     Active Substance: TRIPTORELIN
     Dosage: 45 MG (1 DOSE YEARLY, 11.25 MG)
     Route: 065
     Dates: start: 20190515
  288. TRIPTORELIN [Concomitant]
     Active Substance: TRIPTORELIN
     Dosage: 11.25 MG, QID
     Route: 065
     Dates: start: 20190515
  289. TRIPTORELIN [Concomitant]
     Active Substance: TRIPTORELIN
     Dosage: 18.247 MG
     Route: 065
  290. TRIPTORELIN [Concomitant]
     Active Substance: TRIPTORELIN
     Dosage: 18.247 MG
     Route: 065
  291. AMLODIPINE [Concomitant]
     Active Substance: AMLODIPINE BESYLATE
     Indication: Hypertension
     Dosage: 10 MILLIGRAM, QD
     Route: 048
     Dates: start: 20191204
  292. AMLODIPINE [Concomitant]
     Active Substance: AMLODIPINE BESYLATE
     Indication: Product used for unknown indication
     Dosage: 10 MILLIGRAM, QD
     Route: 048
  293. AMLODIPINE [Concomitant]
     Active Substance: AMLODIPINE BESYLATE
     Dosage: 10 MILLIGRAM
     Route: 048
  294. AMLODIPINE [Concomitant]
     Active Substance: AMLODIPINE BESYLATE
     Dosage: 10 MILLIGRAM, QD
     Route: 048
  295. AMLODIPINE [Concomitant]
     Active Substance: AMLODIPINE BESYLATE
     Dosage: 10 MG, QD
     Route: 048
  296. AMLODIPINE [Concomitant]
     Active Substance: AMLODIPINE BESYLATE
     Dosage: 10 MILLIGRAM, QD
     Route: 048
     Dates: end: 20191204
  297. AMLODIPINE [Concomitant]
     Active Substance: AMLODIPINE BESYLATE
     Dosage: 10 MILLIGRAM, QD
     Route: 048
     Dates: start: 20191204, end: 20191204
  298. AMLODIPINE [Concomitant]
     Active Substance: AMLODIPINE BESYLATE
     Dosage: 10 MILLIGRAM, QD
     Route: 048
  299. AMLODIPINE [Concomitant]
     Active Substance: AMLODIPINE BESYLATE
     Dosage: 10 MILLIGRAM, QD
     Route: 048
  300. AMLODIPINE [Concomitant]
     Active Substance: AMLODIPINE BESYLATE
     Dosage: 10 MILLIGRAM, QD
     Route: 048
  301. AMLODIPINE [Concomitant]
     Active Substance: AMLODIPINE BESYLATE
     Dosage: 10 MILLIGRAM, QD
     Route: 048
  302. AMLODIPINE [Concomitant]
     Active Substance: AMLODIPINE BESYLATE
     Dosage: 10 MILLIGRAM, QD
     Route: 048
  303. AMLODIPINE [Concomitant]
     Active Substance: AMLODIPINE BESYLATE
     Dosage: 10 MILLIGRAM
     Route: 048
  304. AMLODIPINE [Concomitant]
     Active Substance: AMLODIPINE BESYLATE
     Dosage: 10 MILLIGRAM, QD
     Route: 048
  305. AMLODIPINE [Concomitant]
     Active Substance: AMLODIPINE BESYLATE
     Dosage: 10 MILLIGRAM, QD
     Route: 048
     Dates: end: 20191204
  306. METOPROLOL [Concomitant]
     Active Substance: METOPROLOL
     Indication: Hypertension
     Dosage: 25 MILLIGRAM, BID
     Route: 048
  307. METOPROLOL [Concomitant]
     Active Substance: METOPROLOL
     Indication: Product used for unknown indication
     Dosage: 25 MILLIGRAM, BID
     Route: 048
  308. METOPROLOL [Concomitant]
     Active Substance: METOPROLOL
     Dosage: 50 MILLIGRAM, QD
     Route: 048
  309. METOPROLOL [Concomitant]
     Active Substance: METOPROLOL
     Dosage: 50 MILLIGRAM, QD
     Route: 048
  310. METOPROLOL [Concomitant]
     Active Substance: METOPROLOL
     Dosage: 25 MILLIGRAM, BID
     Route: 048
  311. METOPROLOL [Concomitant]
     Active Substance: METOPROLOL
     Dosage: 50 MILLIGRAM, QD
     Route: 048
  312. METOPROLOL [Concomitant]
     Active Substance: METOPROLOL
     Dosage: 25 MILLIGRAM
     Route: 048
  313. METOPROLOL [Concomitant]
     Active Substance: METOPROLOL
     Dosage: 100 MILLIGRAM
     Route: 048
  314. METOPROLOL [Concomitant]
     Active Substance: METOPROLOL
     Dosage: 25 MILLIGRAM
     Route: 048
  315. METOPROLOL [Concomitant]
     Active Substance: METOPROLOL
     Dosage: 25 MILLIGRAM
     Route: 048
  316. METOPROLOL [Concomitant]
     Active Substance: METOPROLOL
     Dosage: 50 MILLIGRAM, QD
     Route: 048
  317. METOPROLOL [Concomitant]
     Active Substance: METOPROLOL
     Dosage: 50 MILLIGRAM, QD
     Route: 048
  318. METOPROLOL [Concomitant]
     Active Substance: METOPROLOL
     Dosage: 50 MILLIGRAM, QD
     Route: 048
  319. METOPROLOL [Concomitant]
     Active Substance: METOPROLOL
     Dosage: 25 MILLIGRAM
     Route: 048
  320. METOPROLOL [Concomitant]
     Active Substance: METOPROLOL
     Dosage: 50 MILLIGRAM, QD
     Route: 048
  321. METOPROLOL [Concomitant]
     Active Substance: METOPROLOL
     Dosage: 25 MILLIGRAM
     Route: 048
  322. METOPROLOL [Concomitant]
     Active Substance: METOPROLOL
     Dosage: 50 MILLIGRAM, BID
     Route: 048
  323. METOPROLOL [Concomitant]
     Active Substance: METOPROLOL
     Dosage: 50 MILLIGRAM, QD
     Route: 065
  324. METOPROLOL [Concomitant]
     Active Substance: METOPROLOL
     Dosage: 25 MILLIGRAM, BID (1 DOSE 12 HOURS)
     Route: 048
  325. METOPROLOL [Concomitant]
     Active Substance: METOPROLOL
     Dosage: 100 MILLIGRAM, QD
     Route: 048
  326. METOPROLOL [Concomitant]
     Active Substance: METOPROLOL
     Dosage: 50 MILLIGRAM, QD
     Route: 048
  327. METOPROLOL [Concomitant]
     Active Substance: METOPROLOL
     Dosage: 50 MILLIGRAM, QD
     Route: 048
  328. METOPROLOL [Concomitant]
     Active Substance: METOPROLOL
     Dosage: 25 MILLIGRAM
     Route: 048
  329. VITAMIN D NOS [Concomitant]
     Active Substance: VITAMIN D NOS
     Indication: Malnutrition
     Dosage: UNK, QD
     Route: 048
     Dates: start: 20190104
  330. VITAMIN D NOS [Concomitant]
     Active Substance: VITAMIN D NOS
     Indication: Prophylaxis
     Dosage: UNK, QD
     Route: 048
     Dates: start: 20190102, end: 20191029
  331. VITAMIN D NOS [Concomitant]
     Active Substance: VITAMIN D NOS
     Dosage: UNK UNK, BID
     Route: 048
     Dates: start: 20190103
  332. VITAMIN D NOS [Concomitant]
     Active Substance: VITAMIN D NOS
     Dosage: UNK UNK, BID
     Route: 048
     Dates: start: 20190103, end: 20191111
  333. VITAMIN D NOS [Concomitant]
     Active Substance: VITAMIN D NOS
     Dosage: UNK UNK, QD
     Route: 065
     Dates: start: 20190102, end: 20190129
  334. VITAMIN D NOS [Concomitant]
     Active Substance: VITAMIN D NOS
     Dosage: UNK, QD
     Route: 048
     Dates: start: 20190104
  335. VITAMIN D NOS [Concomitant]
     Active Substance: VITAMIN D NOS
     Dosage: UNK, BID
     Route: 048
     Dates: start: 20190102, end: 20191029
  336. VITAMIN D NOS [Concomitant]
     Active Substance: VITAMIN D NOS
     Dosage: UNK UNK, BID
     Route: 065
     Dates: start: 20190103, end: 20191011
  337. VITAMIN D NOS [Concomitant]
     Active Substance: VITAMIN D NOS
     Dosage: UNK UNK, BID
     Route: 048
     Dates: start: 20190104
  338. VITAMIN D NOS [Concomitant]
     Active Substance: VITAMIN D NOS
     Dosage: UNK UNK, BID
     Route: 048
     Dates: start: 20190103, end: 20191011
  339. VITAMIN D NOS [Concomitant]
     Active Substance: VITAMIN D NOS
     Dosage: UNK
     Route: 065
     Dates: start: 20190103, end: 20191011
  340. VITAMIN D NOS [Concomitant]
     Active Substance: VITAMIN D NOS
     Dosage: UNK, QD
     Route: 048
     Dates: start: 20190104
  341. SULFAMETHOXAZOLE\TRIMETHOPRIM [Concomitant]
     Active Substance: SULFAMETHOXAZOLE\TRIMETHOPRIM
     Indication: Prophylaxis
     Dosage: 10 ML, QD
     Route: 048
     Dates: start: 20191011
  342. SULFAMETHOXAZOLE\TRIMETHOPRIM [Concomitant]
     Active Substance: SULFAMETHOXAZOLE\TRIMETHOPRIM
     Dosage: 20 ML, QD
     Route: 048
     Dates: start: 20190102, end: 20191015
  343. CHLORHEXIDINE [Concomitant]
     Active Substance: CHLORHEXIDINE
     Indication: Tongue coated
     Dosage: 30 MILLILITER, QD
     Route: 048
     Dates: start: 20191116, end: 20191220
  344. CHLORHEXIDINE [Concomitant]
     Active Substance: CHLORHEXIDINE
     Indication: Tongue coated
  345. TINZAPARIN [Concomitant]
     Active Substance: TINZAPARIN
     Indication: Prophylaxis
     Dosage: 10000 INTERNATIONAL UNIT, OD
     Route: 058
     Dates: start: 20190110
  346. Altraplen compact [Concomitant]
     Indication: Malnutrition
     Dosage: UNK
     Dates: start: 20191117
  347. DIETARY SUPPLEMENT [Concomitant]
     Active Substance: DIETARY SUPPLEMENT
     Indication: Malnutrition
     Dosage: 1 OT, QD (1 CARTON)
     Dates: start: 20190102, end: 20191029
  348. DIETARY SUPPLEMENT [Concomitant]
     Active Substance: DIETARY SUPPLEMENT
     Dosage: UNK, QD
     Dates: start: 20190103, end: 20191111
  349. DIETARY SUPPLEMENT [Concomitant]
     Active Substance: DIETARY SUPPLEMENT
     Dosage: 1 CARTON, QD
     Route: 048
     Dates: start: 20190102, end: 20191029
  350. FORTICAL [Concomitant]
     Active Substance: CALCITONIN SALMON
     Indication: Product used for unknown indication
     Dosage: UNK
     Route: 065
     Dates: start: 20190103, end: 20191011
  351. FORTICAL [Concomitant]
     Active Substance: CALCITONIN SALMON
     Dosage: UNK
     Route: 065
  352. CALCIUM\CHOLECALCIFEROL [Concomitant]
     Active Substance: CALCIUM\CHOLECALCIFEROL
     Indication: Bone disorder
     Dosage: 2 DOSAGE FORM, OD, 2 TABLET
     Route: 048
     Dates: start: 20191016, end: 20191029
  353. CALCIUM\CHOLECALCIFEROL [Concomitant]
     Active Substance: CALCIUM\CHOLECALCIFEROL
     Indication: Bone disorder
     Dosage: 2 DOSAGE FORM, BID
     Route: 048
     Dates: start: 20190103, end: 20190211
  354. CALCIUM\CHOLECALCIFEROL [Concomitant]
     Active Substance: CALCIUM\CHOLECALCIFEROL
     Indication: Prophylaxis
     Dosage: 6 DOSAGE FORM 2 DOSAGE FORM, TID, 2 TABLET
     Route: 048
     Dates: start: 20190103, end: 20190211
  355. CALCIUM\CHOLECALCIFEROL [Concomitant]
     Active Substance: CALCIUM\CHOLECALCIFEROL
     Indication: Product used for unknown indication
     Dosage: 2 DOSAGE FORM, BID, 2 TABLET
     Route: 048
     Dates: start: 20190212, end: 20191015
  356. CALCIUM\CHOLECALCIFEROL [Concomitant]
     Active Substance: CALCIUM\CHOLECALCIFEROL
     Dosage: UNK UNK, QD
     Route: 048
     Dates: start: 20190104, end: 20190211
  357. CALCIUM\CHOLECALCIFEROL [Concomitant]
     Active Substance: CALCIUM\CHOLECALCIFEROL
     Dosage: UNK
     Route: 048
     Dates: start: 201901
  358. CALCIUM\CHOLECALCIFEROL [Concomitant]
     Active Substance: CALCIUM\CHOLECALCIFEROL
     Dosage: UNK UNK, BID
     Route: 048
     Dates: start: 20190103, end: 20190211
  359. CALCIUM\CHOLECALCIFEROL [Concomitant]
     Active Substance: CALCIUM\CHOLECALCIFEROL
     Dosage: 8 DOSAGE FORM, QD, (4 DOSAGE FORM, BID)
     Route: 048
     Dates: start: 20190103, end: 20191011
  360. CALCIUM\CHOLECALCIFEROL [Concomitant]
     Active Substance: CALCIUM\CHOLECALCIFEROL
     Dosage: 2 DOSAGE FORM, QD
     Route: 048
     Dates: start: 20191016, end: 20191029
  361. CALCIUM\CHOLECALCIFEROL [Concomitant]
     Active Substance: CALCIUM\CHOLECALCIFEROL
     Dosage: 4 DOSAGE FORM, QD (2 DOSAGE FORM, BID, 2 TABLET)
     Route: 048
     Dates: start: 20190212, end: 20191015
  362. CALCIUM\CHOLECALCIFEROL [Concomitant]
     Active Substance: CALCIUM\CHOLECALCIFEROL
     Dosage: 2 DOSAGE FORM, BID
     Route: 048
     Dates: start: 20190103, end: 20190211
  363. CALCIUM\CHOLECALCIFEROL [Concomitant]
     Active Substance: CALCIUM\CHOLECALCIFEROL
     Dosage: 6 DOSAGE FORM, QD (2 TABLET)
     Route: 048
     Dates: start: 20190103, end: 20190211
  364. CALCIUM\CHOLECALCIFEROL [Concomitant]
     Active Substance: CALCIUM\CHOLECALCIFEROL
     Dosage: 2 DOSAGE FORM, BID
     Route: 048
     Dates: start: 20190103, end: 20191011
  365. CALCIUM\CHOLECALCIFEROL [Concomitant]
     Active Substance: CALCIUM\CHOLECALCIFEROL
     Dosage: 6 DOSAGE FORM, TID, 2 TABLET
     Route: 048
     Dates: start: 20190103, end: 20190211
  366. CALCIUM\CHOLECALCIFEROL [Concomitant]
     Active Substance: CALCIUM\CHOLECALCIFEROL
     Dosage: 6 DOSAGE FORM, QD (2 DOSAGE FORM, TID, 2 TABLET)
     Route: 048
     Dates: start: 20190103, end: 20190211
  367. CALCIUM\CHOLECALCIFEROL [Concomitant]
     Active Substance: CALCIUM\CHOLECALCIFEROL
     Dosage: 18 DOSAGE FORM, QD
     Route: 048
     Dates: start: 20190103, end: 20190211
  368. CALCIUM\CHOLECALCIFEROL [Concomitant]
     Active Substance: CALCIUM\CHOLECALCIFEROL
     Dosage: 4 DOSAGE FORM, BID
     Route: 048
     Dates: start: 20190103, end: 20191011
  369. CALCIUM\CHOLECALCIFEROL [Concomitant]
     Active Substance: CALCIUM\CHOLECALCIFEROL
     Dosage: 2 DOSAGE FORM, OD, 2 TABLET
     Route: 048
     Dates: start: 20191016, end: 20191029
  370. MYCOSTATIN [Concomitant]
     Active Substance: NYSTATIN
     Indication: Tongue coated
     Dosage: 9 MILLILITER, QD
     Route: 048
     Dates: start: 20191116, end: 20191220
  371. MYCOSTATIN [Concomitant]
     Active Substance: NYSTATIN
     Indication: Prophylaxis
     Dosage: UNK; ;
     Route: 048
     Dates: start: 20190104
  372. MYCOSTATIN [Concomitant]
     Active Substance: NYSTATIN
     Indication: Tongue coated
     Dosage: 3 MILLILITER, QD
     Route: 048
     Dates: start: 20191116, end: 20191220
  373. MYCOSTATIN [Concomitant]
     Active Substance: NYSTATIN
     Dosage: UNK
     Route: 048
  374. MYCOSTATIN [Concomitant]
     Active Substance: NYSTATIN
     Dosage: 1 DOSAGE FORM
     Route: 048
     Dates: end: 20190104
  375. MYCOSTATIN [Concomitant]
     Active Substance: NYSTATIN
     Dosage: UNK
     Route: 048
     Dates: start: 20190104
  376. MYCOSTATIN [Concomitant]
     Active Substance: NYSTATIN
     Dosage: 420 ML
     Route: 048
  377. MYCOSTATIN [Concomitant]
     Active Substance: NYSTATIN
     Dosage: UNK
     Route: 065
  378. MYCOSTATIN [Concomitant]
     Active Substance: NYSTATIN
     Dosage: 3 ML, QD
     Route: 048
     Dates: start: 20191116, end: 20191223
  379. MYCOSTATIN [Concomitant]
     Active Substance: NYSTATIN
     Dosage: 3 ML, QD (1ML TID)
     Route: 048
     Dates: start: 20191116, end: 20191220
  380. ZINC SULFATE [Concomitant]
     Active Substance: ZINC SULFATE
     Indication: Malnutrition
     Dosage: UNK, BID;
     Route: 048
     Dates: start: 20190103, end: 20191011
  381. ZINC SULFATE [Concomitant]
     Active Substance: ZINC SULFATE
     Dosage: UNK
     Route: 065
  382. ZINC SULFATE [Concomitant]
     Active Substance: ZINC SULFATE
     Dosage: UNK
     Route: 065
  383. ZINC SULFATE [Concomitant]
     Active Substance: ZINC SULFATE
     Dosage: UNK
     Route: 065
  384. SODIUM FLUORIDE [Concomitant]
     Active Substance: SODIUM FLUORIDE
     Indication: Malnutrition
     Dosage: 90 MILLILITER
     Route: 048
     Dates: start: 20190103
  385. MAGNESIUM SULFATE [Concomitant]
     Active Substance: MAGNESIUM SULFATE
     Indication: Product used for unknown indication
     Dosage: UNK UNK, BID;
     Route: 048
     Dates: start: 20190103, end: 20191011
  386. MAGNESIUM SULFATE [Concomitant]
     Active Substance: MAGNESIUM SULFATE
     Indication: Malnutrition
     Dosage: UNK
     Route: 065
  387. MAGNESIUM SULFATE [Concomitant]
     Active Substance: MAGNESIUM SULFATE
     Dosage: UNK
     Route: 065
  388. MAGNESIUM SULFATE [Concomitant]
     Active Substance: MAGNESIUM SULFATE
     Dosage: UNK; ;
     Route: 065
  389. MAGNESIUM SULFATE [Concomitant]
     Active Substance: MAGNESIUM SULFATE
     Dosage: UNK; ;
     Route: 065
  390. MAGNESIUM SULFATE [Concomitant]
     Active Substance: MAGNESIUM SULFATE
     Dosage: UNK
  391. MAGNESIUM SULFATE [Concomitant]
     Active Substance: MAGNESIUM SULFATE
     Dosage: UNK
     Route: 065
  392. MAGNESIUM SULFATE [Concomitant]
     Active Substance: MAGNESIUM SULFATE
     Dosage: UNK, BID
     Route: 048
     Dates: start: 20190103, end: 20191011
  393. MAGNESIUM SULFATE [Concomitant]
     Active Substance: MAGNESIUM SULFATE
     Dosage: UNK; ;
     Route: 065
  394. MAGNESIUM SULFATE [Concomitant]
     Active Substance: MAGNESIUM SULFATE
     Dosage: UNK; ;
     Route: 065
  395. ZOLPIDEM [Concomitant]
     Active Substance: ZOLPIDEM TARTRATE
     Indication: Prophylaxis
     Dosage: 10 MILLIGRAM, UNK
     Route: 048
     Dates: start: 20180816, end: 20191029
  396. ZOLPIDEM [Concomitant]
     Active Substance: ZOLPIDEM TARTRATE
     Indication: Product used for unknown indication
     Dosage: 10 MILLIGRAM, UNK
     Route: 048
     Dates: start: 20180819, end: 20191029
  397. CARBOHYDRATES\FATTY ACIDS\MINERALS\PROTEIN\VITAMINS [Concomitant]
     Active Substance: CARBOHYDRATES\FATTY ACIDS\MINERALS\PROTEIN\VITAMINS
     Indication: Malnutrition
     Dosage: UNK UNK, QD
     Route: 048
     Dates: start: 20190102, end: 20191029
  398. CARBOHYDRATES\FATTY ACIDS\MINERALS\PROTEIN\VITAMINS [Concomitant]
     Active Substance: CARBOHYDRATES\FATTY ACIDS\MINERALS\PROTEIN\VITAMINS
     Dosage: 2 DOSAGE FORM, QD
     Route: 048
     Dates: start: 20190103, end: 20191011
  399. CARBOHYDRATES\FATTY ACIDS\MINERALS\PROTEIN\VITAMINS [Concomitant]
     Active Substance: CARBOHYDRATES\FATTY ACIDS\MINERALS\PROTEIN\VITAMINS
     Dosage: UNK UNK, QD
     Route: 048
     Dates: start: 20190103, end: 20191011
  400. CARBOHYDRATES\FATTY ACIDS\MINERALS\PROTEIN\VITAMINS [Concomitant]
     Active Substance: CARBOHYDRATES\FATTY ACIDS\MINERALS\PROTEIN\VITAMINS
     Dosage: UNK UNK, QD
     Route: 048
     Dates: start: 20190103, end: 20191011
  401. SODIUM FLUORIDE [Concomitant]
     Active Substance: SODIUM FLUORIDE
     Indication: Malnutrition
     Dosage: 90 MILLILITER, QD
     Dates: start: 20190103
  402. CUPRIC SULFATE ANHYDROUS [Concomitant]
     Active Substance: CUPRIC SULFATE ANHYDROUS
     Indication: Malnutrition
     Dosage: UNK UNK, BID;
     Route: 048
     Dates: start: 20190103, end: 20191011
  403. CUPRIC SULFATE ANHYDROUS [Concomitant]
     Active Substance: CUPRIC SULFATE ANHYDROUS
     Dosage: UNK, BID
     Route: 048
     Dates: start: 20190103, end: 20191011
  404. CUPRIC SULFATE ANHYDROUS [Concomitant]
     Active Substance: CUPRIC SULFATE ANHYDROUS
     Dosage: UNK
  405. CUPRIC SULFATE ANHYDROUS [Concomitant]
     Active Substance: CUPRIC SULFATE ANHYDROUS
     Dosage: UNK
     Route: 065
  406. CUPRIC SULFATE ANHYDROUS [Concomitant]
     Active Substance: CUPRIC SULFATE ANHYDROUS
     Dosage: UNK
     Route: 065
  407. CUPRIC SULFATE ANHYDROUS [Concomitant]
     Active Substance: CUPRIC SULFATE ANHYDROUS
     Dosage: UNK
     Route: 065
  408. CUPRIC SULFATE ANHYDROUS [Concomitant]
     Active Substance: CUPRIC SULFATE ANHYDROUS
     Dosage: UNK
     Route: 065
  409. CUPRIC SULFATE ANHYDROUS [Concomitant]
     Active Substance: CUPRIC SULFATE ANHYDROUS
     Dosage: UNK
     Route: 065
  410. CUPRIC SULFATE ANHYDROUS [Concomitant]
     Active Substance: CUPRIC SULFATE ANHYDROUS
     Dosage: UNK
     Route: 065
  411. CUPRIC SULFATE ANHYDROUS [Concomitant]
     Active Substance: CUPRIC SULFATE ANHYDROUS
     Dosage: UNK
     Route: 065
  412. CUPRIC SULFATE ANHYDROUS [Concomitant]
     Active Substance: CUPRIC SULFATE ANHYDROUS
     Dosage: UNK
     Route: 065
  413. CUPRIC SULFATE ANHYDROUS [Concomitant]
     Active Substance: CUPRIC SULFATE ANHYDROUS
     Dosage: UNK
     Route: 065
  414. CUPRIC SULFATE ANHYDROUS [Concomitant]
     Active Substance: CUPRIC SULFATE ANHYDROUS
     Dosage: UNK
     Route: 065
  415. CUPRIC SULFATE ANHYDROUS [Concomitant]
     Active Substance: CUPRIC SULFATE ANHYDROUS
     Dosage: UNK
     Route: 065
  416. CUPRIC SULFATE ANHYDROUS [Concomitant]
     Active Substance: CUPRIC SULFATE ANHYDROUS
     Dosage: UNK
     Route: 065
  417. CUPRIC SULFATE ANHYDROUS [Concomitant]
     Active Substance: CUPRIC SULFATE ANHYDROUS
     Dosage: UNK
     Route: 065
  418. PENTAZOCINE LACTATE [Concomitant]
     Active Substance: PENTAZOCINE LACTATE
     Indication: Malnutrition
     Dosage: UNK UNK, BID;
     Route: 048
     Dates: start: 20191003, end: 20191011
  419. PENTAZOCINE LACTATE [Concomitant]
     Active Substance: PENTAZOCINE LACTATE
     Dosage: UNK UNK, QD;
     Route: 048
     Dates: start: 20191020, end: 20191029
  420. PENTAZOCINE LACTATE [Concomitant]
     Active Substance: PENTAZOCINE LACTATE
     Dosage: UNK
     Route: 065
     Dates: start: 20191020, end: 20191029
  421. PENTAZOCINE LACTATE [Concomitant]
     Active Substance: PENTAZOCINE LACTATE
     Dosage: UNK UNK, QD
     Route: 048
     Dates: start: 20191020, end: 20191029
  422. PENTAZOCINE LACTATE [Concomitant]
     Active Substance: PENTAZOCINE LACTATE
     Dosage: UNK, BID
     Route: 065
     Dates: start: 20191003, end: 20191011
  423. PENTAZOCINE LACTATE [Concomitant]
     Active Substance: PENTAZOCINE LACTATE
     Dosage: UNK
     Route: 065
     Dates: start: 20191003, end: 20191011
  424. PENTAZOCINE LACTATE [Concomitant]
     Active Substance: PENTAZOCINE LACTATE
     Dosage: UNK UNK, QD
     Route: 065
     Dates: start: 20191003, end: 20191011
  425. PENTAZOCINE LACTATE [Concomitant]
     Active Substance: PENTAZOCINE LACTATE
     Dosage: UNK UNK, QD
     Route: 065
     Dates: start: 20191020, end: 20191029
  426. LIDOCAINE [Concomitant]
     Active Substance: LIDOCAINE
     Indication: Tongue coated
     Dosage: UNK, QD
     Route: 048
     Dates: start: 20190103, end: 20191011
  427. LIDOCAINE [Concomitant]
     Active Substance: LIDOCAINE
     Indication: Malnutrition
     Dosage: 30 MILLILITER
     Route: 048
     Dates: start: 20191116, end: 20191220
  428. LIDOCAINE [Concomitant]
     Active Substance: LIDOCAINE
     Indication: Product used for unknown indication
     Dosage: 90 ML, QD, (30 MILLILITER, TID)
     Route: 048
     Dates: start: 20191116, end: 20191220
  429. LIDOCAINE [Concomitant]
     Active Substance: LIDOCAINE
     Dosage: 30 MILLILITER, QD
     Route: 048
     Dates: start: 20191116, end: 20191220
  430. LIDOCAINE [Concomitant]
     Active Substance: LIDOCAINE
     Dosage: 10 MILLILITER, TID
     Route: 048
     Dates: start: 20191116, end: 20191220
  431. VALACYCLOVIR HYDROCHLORIDE [Concomitant]
     Active Substance: VALACYCLOVIR HYDROCHLORIDE
     Indication: Prophylaxis
     Dosage: 500 MILLIGRAM, OD
     Route: 048
     Dates: start: 20190817
  432. VALACYCLOVIR HYDROCHLORIDE [Concomitant]
     Active Substance: VALACYCLOVIR HYDROCHLORIDE
     Dosage: 500 MILLIGRAM, OD
     Route: 048
  433. VALACYCLOVIR HYDROCHLORIDE [Concomitant]
     Active Substance: VALACYCLOVIR HYDROCHLORIDE
     Dosage: 500 MILLIGRAM, OD
     Route: 048
     Dates: start: 20190817
  434. ZOLEDRONIC ACID [Concomitant]
     Active Substance: ZOLEDRONIC ACID
     Indication: Prophylaxis
     Dosage: 4 MILLIGRAM
     Route: 041
     Dates: start: 20181106
  435. ZOLEDRONIC ACID [Concomitant]
     Active Substance: ZOLEDRONIC ACID
     Indication: Product used for unknown indication
     Dosage: UNK
     Route: 041
     Dates: start: 20181106
  436. ZOLEDRONIC ACID [Concomitant]
     Active Substance: ZOLEDRONIC ACID
     Dosage: 4 MILLIGRAM IN 1 MONTH
     Route: 041
     Dates: start: 20181106
  437. ZOLEDRONIC ACID [Concomitant]
     Active Substance: ZOLEDRONIC ACID
     Dosage: 4 MILLIGRAM, OD
     Route: 041
     Dates: start: 20181106
  438. ZOLEDRONIC ACID [Concomitant]
     Active Substance: ZOLEDRONIC ACID
     Dosage: UNK
  439. ZOLEDRONIC ACID [Concomitant]
     Active Substance: ZOLEDRONIC ACID
     Dosage: 4 MILLIGRAM, QD
     Route: 041
     Dates: start: 20181106
  440. COTRIMOXAZOLE [Concomitant]
     Active Substance: SULFAMETHOXAZOLE\TRIMETHOPRIM
     Indication: Antifungal prophylaxis
     Dosage: 480 MILLIGRAM, QD
     Route: 048
     Dates: start: 20180817, end: 20191015
  441. COTRIMOXAZOLE [Concomitant]
     Active Substance: SULFAMETHOXAZOLE\TRIMETHOPRIM
     Indication: Product used for unknown indication
  442. PANTOPRAZOLE [Concomitant]
     Active Substance: PANTOPRAZOLE
     Indication: Prophylaxis
     Dosage: 80 MILLIGRAM, QD
     Route: 048
     Dates: start: 20191016
  443. PANTOPRAZOLE [Concomitant]
     Active Substance: PANTOPRAZOLE
     Indication: Product used for unknown indication
     Dosage: 20 MILLIGRAM, QD
     Route: 048
     Dates: start: 20190102, end: 20190102
  444. PANTOPRAZOLE [Concomitant]
     Active Substance: PANTOPRAZOLE
     Dosage: 20 MILLIGRAM, OD
     Route: 048
     Dates: start: 20190102, end: 20191015
  445. PANTOPRAZOLE [Concomitant]
     Active Substance: PANTOPRAZOLE
     Dosage: 20 MILLIGRAM
     Route: 048
     Dates: start: 20180803
  446. PANTOPRAZOLE [Concomitant]
     Active Substance: PANTOPRAZOLE
     Dosage: 80 MILLIGRAM, QD
     Route: 048
     Dates: start: 20191015
  447. PANTOPRAZOLE [Concomitant]
     Active Substance: PANTOPRAZOLE
     Dosage: UNK UNK, QD
     Route: 048
     Dates: start: 20191020, end: 20191020
  448. PANTOPRAZOLE [Concomitant]
     Active Substance: PANTOPRAZOLE
     Dosage: 20 MILLIGRAM, QD
     Route: 048
     Dates: start: 20190102, end: 20191015
  449. PANTOPRAZOLE [Concomitant]
     Active Substance: PANTOPRAZOLE
     Dosage: 40 MILLIGRAM, BID (80 MG, QD)
     Route: 048
     Dates: start: 20191016
  450. PANTOPRAZOLE [Concomitant]
     Active Substance: PANTOPRAZOLE
     Dosage: 80 MILLIGRAM, QD
     Route: 048
     Dates: start: 20191016
  451. CHOLECALCIFEROL [Concomitant]
     Active Substance: CHOLECALCIFEROL
     Indication: Malnutrition
     Dosage: UNK UNK, BID;
     Route: 048
     Dates: start: 20190212, end: 20191015
  452. CHOLECALCIFEROL [Concomitant]
     Active Substance: CHOLECALCIFEROL
     Indication: Bone disorder
     Dosage: UNK UNK, BID;
     Route: 048
     Dates: start: 20190103, end: 20191011
  453. CHOLECALCIFEROL [Concomitant]
     Active Substance: CHOLECALCIFEROL
     Indication: Prophylaxis
     Dosage: UNK, QD;
     Route: 048
     Dates: start: 20191016, end: 20191029
  454. CHOLECALCIFEROL [Concomitant]
     Active Substance: CHOLECALCIFEROL
     Dosage: UNK UNK, BID;
     Route: 048
     Dates: start: 20190103, end: 20190211
  455. TRIMETHOPRIM [Concomitant]
     Active Substance: TRIMETHOPRIM
     Indication: Antifungal prophylaxis
     Dosage: 20 MILLILITER, QD
     Route: 048
     Dates: start: 20190102, end: 20191015
  456. TRIMETHOPRIM [Concomitant]
     Active Substance: TRIMETHOPRIM
     Indication: Prophylaxis
     Dosage: 480 MILLIGRAM, QD
     Route: 048
     Dates: start: 20191011
  457. TRIMETHOPRIM [Concomitant]
     Active Substance: TRIMETHOPRIM
     Dosage: 10 MILLILITER;
     Route: 048
     Dates: start: 20191011
  458. TRIMETHOPRIM [Concomitant]
     Active Substance: TRIMETHOPRIM
     Dosage: 480 MILLIGRAM, QD
     Route: 048
     Dates: start: 20180817, end: 20191015
  459. TRIMETHOPRIM [Concomitant]
     Active Substance: TRIMETHOPRIM
     Dosage: UNK
     Route: 065
     Dates: start: 20191011
  460. TRIMETHOPRIM [Concomitant]
     Active Substance: TRIMETHOPRIM
     Dosage: 480 MG, QD
  461. TRIMETHOPRIM [Concomitant]
     Active Substance: TRIMETHOPRIM
     Dosage: 480 MILLIGRAM, QD
     Route: 048
  462. TRIMETHOPRIM [Concomitant]
     Active Substance: TRIMETHOPRIM
     Dosage: 480 MILLIGRAM, QD
     Route: 048
  463. TRIMETHOPRIM [Concomitant]
     Active Substance: TRIMETHOPRIM
     Dosage: 480 MILLIGRAM, QD
     Route: 048
  464. TRIMETHOPRIM [Concomitant]
     Active Substance: TRIMETHOPRIM
     Dosage: 480 MG, QD
     Route: 048
  465. TRIMETHOPRIM [Concomitant]
     Active Substance: TRIMETHOPRIM
     Dosage: 480 MG, QD
     Route: 048
  466. TRIMETHOPRIM [Concomitant]
     Active Substance: TRIMETHOPRIM
     Dosage: 480 MG, QD
     Route: 048
  467. TRIMETHOPRIM [Concomitant]
     Active Substance: TRIMETHOPRIM
     Dosage: 480 MG, QD
     Route: 048
  468. TRIMETHOPRIM [Concomitant]
     Active Substance: TRIMETHOPRIM
     Dosage: 480 MG, QD
     Route: 048
  469. TRIMETHOPRIM [Concomitant]
     Active Substance: TRIMETHOPRIM
     Dosage: 480 MG, QD
     Route: 048
  470. TRIMETHOPRIM [Concomitant]
     Active Substance: TRIMETHOPRIM
     Dosage: 480 MG, QD
     Route: 048
  471. TRIMETHOPRIM [Concomitant]
     Active Substance: TRIMETHOPRIM
     Dosage: 480 MILLIGRAM, QD
     Route: 048
  472. TRIMETHOPRIM [Concomitant]
     Active Substance: TRIMETHOPRIM
     Dosage: 480 MG, QD
     Route: 048
  473. TRIMETHOPRIM [Concomitant]
     Active Substance: TRIMETHOPRIM
     Dosage: 480 MG, QD
     Route: 048
  474. TRIMETHOPRIM [Concomitant]
     Active Substance: TRIMETHOPRIM
     Dosage: 480 MILLIGRAM, QD
     Route: 048
  475. TRIMETHOPRIM [Concomitant]
     Active Substance: TRIMETHOPRIM
     Dosage: 480 MG, QD
     Route: 048
  476. TRIMETHOPRIM [Concomitant]
     Active Substance: TRIMETHOPRIM
     Dosage: 480 MG, QD
     Route: 048
  477. TRIMETHOPRIM [Concomitant]
     Active Substance: TRIMETHOPRIM
     Dosage: 480 MILLIGRAM, QD
     Route: 048
  478. TRIMETHOPRIM [Concomitant]
     Active Substance: TRIMETHOPRIM
     Dosage: 480 MILLIGRAM, QD
     Route: 048
  479. VITAMINS [Concomitant]
     Active Substance: VITAMINS
     Indication: Prophylaxis
     Dosage: DAILY DOSE : 1 TABLET?UNIT DOSE : 1 TABLET?1 TABLET
     Route: 048
     Dates: start: 20190104
  480. MAGNESIUM OXIDE [Concomitant]
     Active Substance: MAGNESIUM OXIDE
     Indication: Malnutrition
     Dosage: UNK UNK, BID
     Route: 048
     Dates: start: 20190103, end: 20191011
  481. MAGNESIUM OXIDE [Concomitant]
     Active Substance: MAGNESIUM OXIDE
     Dosage: UNK
     Route: 048
  482. MAGNESIUM OXIDE [Concomitant]
     Active Substance: MAGNESIUM OXIDE
     Dosage: UNK UNK, BID
     Route: 048
     Dates: start: 20190103, end: 20191011
  483. MAGNESIUM OXIDE [Concomitant]
     Active Substance: MAGNESIUM OXIDE
     Dosage: UNK, UNK, QD
     Route: 048
     Dates: start: 20190103, end: 20191011
  484. MAGNESIUM OXIDE [Concomitant]
     Active Substance: MAGNESIUM OXIDE
     Dosage: UNK, UNK, QD
     Route: 048
     Dates: start: 20190103, end: 20191011
  485. MAGNESIUM OXIDE [Concomitant]
     Active Substance: MAGNESIUM OXIDE
     Dosage: UNK UNK, BID
     Route: 048
     Dates: start: 20190103, end: 20191011
  486. MAGNESIUM OXIDE [Concomitant]
     Active Substance: MAGNESIUM OXIDE
     Dosage: UNK
     Route: 065
  487. MAGNESIUM OXIDE [Concomitant]
     Active Substance: MAGNESIUM OXIDE
     Dosage: UNK
     Route: 065
  488. MAGNESIUM OXIDE [Concomitant]
     Active Substance: MAGNESIUM OXIDE
     Dosage: UNK
     Route: 065
  489. MAGNESIUM OXIDE [Concomitant]
     Active Substance: MAGNESIUM OXIDE
     Dosage: UNK
     Route: 048
  490. CALCIUM CARBONATE [Concomitant]
     Active Substance: CALCIUM CARBONATE
     Indication: Malnutrition
     Dosage: UNK, BID
     Route: 048
     Dates: start: 20190103, end: 20191011
  491. ASPIRIN [Concomitant]
     Active Substance: ASPIRIN
     Indication: Prophylaxis
     Dosage: 75 MILLIGRAM
     Route: 048
  492. ASPIRIN [Concomitant]
     Active Substance: ASPIRIN
     Indication: Anaemia
     Dosage: 75 MILLIGRAM, QD
     Route: 048
  493. ASPIRIN [Concomitant]
     Active Substance: ASPIRIN
     Dosage: 75 MILLIGRAM
     Route: 048
  494. ASPIRIN [Concomitant]
     Active Substance: ASPIRIN
     Dosage: 75 MILLIGRAM
     Route: 048
  495. INFLUENZA VIRUS VACCINE [Concomitant]
     Active Substance: INFLUENZA VIRUS VACCINE
     Indication: Prophylaxis
     Dosage: 1 DF, QD (1 AMPULE)
     Route: 065
     Dates: start: 20191112, end: 20191112
  496. INFLUENZA VIRUS VACCINE [Concomitant]
     Active Substance: INFLUENZA VIRUS VACCINE
     Dosage: UNK
     Route: 065
  497. INFLUENZA VIRUS VACCINE [Concomitant]
     Active Substance: INFLUENZA VIRUS VACCINE
     Dosage: UNK
     Route: 065
  498. DOXYCYCLINE [Concomitant]
     Active Substance: DOXYCYCLINE
     Indication: Product used for unknown indication
     Dosage: 200 MILLIGRAM, BID
     Route: 048
     Dates: start: 20190109, end: 20190114
  499. DOXYCYCLINE [Concomitant]
     Active Substance: DOXYCYCLINE
     Dosage: 400 MG, QD
     Route: 048
     Dates: start: 20191009, end: 20191114
  500. CLARITHROMYCIN [Concomitant]
     Active Substance: CLARITHROMYCIN
     Indication: Product used for unknown indication
     Dosage: 500 MILLIGRAM
     Route: 065
     Dates: start: 20190106, end: 20190109
  501. CLARITHROMYCIN [Concomitant]
     Active Substance: CLARITHROMYCIN
     Dosage: 500 MG
     Route: 048
     Dates: start: 20191006, end: 20191009
  502. CLARITHROMYCIN [Concomitant]
     Active Substance: CLARITHROMYCIN
     Dosage: 500 MILLIGRAM
     Route: 048
     Dates: start: 20190106, end: 20190109
  503. PIPERACILLIN SODIUM\TAZOBACTAM SODIUM [Concomitant]
     Active Substance: PIPERACILLIN SODIUM\TAZOBACTAM SODIUM
     Indication: Product used for unknown indication
     Dosage: 4.5 G
     Route: 042
     Dates: start: 20190106, end: 20190110
  504. PIPERACILLIN SODIUM\TAZOBACTAM SODIUM [Concomitant]
     Active Substance: PIPERACILLIN SODIUM\TAZOBACTAM SODIUM
  505. AUGMENTIN [Concomitant]
     Active Substance: AMOXICILLIN\CLAVULANATE POTASSIUM
     Indication: Product used for unknown indication
     Dosage: 3.6 GRAM
     Route: 042
     Dates: start: 20190102, end: 20190103
  506. AUGMENTIN [Concomitant]
     Active Substance: AMOXICILLIN\CLAVULANATE POTASSIUM
     Dosage: 1875 MILLIGRAM
     Route: 048
     Dates: start: 20190103, end: 20190106
  507. Fortisip 125 Compact Fibre [Concomitant]
     Indication: Product used for unknown indication
     Dosage: DAILY DOSE : 2 ?UNIT DOSE : 1 ?2
     Route: 048
     Dates: start: 20190103
  508. Fortisip 125 Compact Fibre [Concomitant]
  509. Procal shot [Concomitant]
     Indication: Product used for unknown indication
     Dosage: 90 MILLILITER
     Route: 048
     Dates: start: 20190103
  510. Procal shot [Concomitant]
  511. ENOXAPARIN SODIUM [Concomitant]
     Active Substance: ENOXAPARIN SODIUM
     Indication: Product used for unknown indication
     Dosage: 40 MG, QD
     Route: 048
     Dates: start: 20190103, end: 20190109
  512. ENOXAPARIN SODIUM [Concomitant]
     Active Substance: ENOXAPARIN SODIUM
  513. FRESUBIN [Concomitant]
     Active Substance: AMINO ACIDS\DEXTROSE\ELECTROLYTES NOS\SOYBEAN OIL\VITAMINS
     Indication: Product used for unknown indication
     Dosage: 200 MILLILITER
     Route: 048
     Dates: start: 20190104, end: 20190107
  514. FRESUBIN [Concomitant]
     Active Substance: AMINO ACIDS\DEXTROSE\ELECTROLYTES NOS\SOYBEAN OIL\VITAMINS
  515. THIAMINE [Concomitant]
     Active Substance: THIAMINE
     Indication: Product used for unknown indication
     Dosage: 300 MILLIGRAM
     Route: 048
     Dates: start: 20190105, end: 20190112
  516. THIAMINE [Concomitant]
     Active Substance: THIAMINE
  517. MAGNESIUM [Concomitant]
     Active Substance: MAGNESIUM
     Indication: Product used for unknown indication
     Dosage: DAILY DOSE : 3 TABLET?TOTAL DOSE : 21 TABLET?UNIT DOSE : 1 TABLET?3 TABLET
     Route: 048
     Dates: start: 20190105, end: 20190112
  518. MAGNESIUM [Concomitant]
     Active Substance: MAGNESIUM
  519. sandoz phosphate [Concomitant]
     Indication: Product used for unknown indication
     Dosage: DAILY DOSE : 3 TABLET?TOTAL DOSE : 15 TABLET?UNIT DOSE : 1 TABLET?3 TABLET
     Route: 048
     Dates: start: 20190107, end: 20190112
  520. sandoz phosphate [Concomitant]
  521. INNOHEP [Concomitant]
     Active Substance: TINZAPARIN SODIUM
     Indication: Product used for unknown indication
     Dosage: 10000 IU (INTERNATIONAL UNIT)
     Route: 058
     Dates: start: 20190110
  522. INNOHEP [Concomitant]
     Active Substance: TINZAPARIN SODIUM
     Indication: Prophylaxis
  523. solpadol [Concomitant]
     Indication: Product used for unknown indication
     Dosage: UNIT DOSE : 2 TABLET?FREQUENCY TEXT: AS NEEDED
     Route: 048
  524. solpadol [Concomitant]
  525. Valciclovir [Concomitant]
     Indication: Product used for unknown indication
     Dosage: 500 MILLIGRAM
     Route: 048
  526. Valciclovir [Concomitant]
  527. Sandishake [Concomitant]
     Indication: Product used for unknown indication
     Dosage: 85 GRAM
     Route: 048
     Dates: start: 20190107, end: 20190111
  528. Sandishake [Concomitant]
  529. TAZCINE [PENTAZOCINE LACTATE] [Concomitant]
     Indication: Product used for unknown indication
     Dosage: 4.5 GRAM, QD
     Route: 042
     Dates: start: 20190106, end: 20190110
  530. ZOLMITRIPTAN [Concomitant]
     Active Substance: ZOLMITRIPTAN
     Indication: Product used for unknown indication
     Route: 048
  531. ZOLMITRIPTAN [Concomitant]
     Active Substance: ZOLMITRIPTAN
     Dosage: UNK
     Route: 048
  532. CALCITONIN SALMON [Concomitant]
     Active Substance: CALCITONIN SALMON
     Indication: Malnutrition
     Dosage: UNK UNK, BID
     Route: 048
     Dates: start: 20190130, end: 20191011
  533. CALCITONIN SALMON [Concomitant]
     Active Substance: CALCITONIN SALMON
     Dosage: UNK, QD
     Route: 048
     Dates: start: 20190130, end: 20191011
  534. CALCITONIN SALMON [Concomitant]
     Active Substance: CALCITONIN SALMON
     Dosage: UNK
     Route: 048
     Dates: start: 20191020, end: 20191029
  535. CALCITONIN SALMON [Concomitant]
     Active Substance: CALCITONIN SALMON
     Dosage: UNK, QD
     Route: 048
     Dates: start: 20190103, end: 20191011
  536. CALCITONIN SALMON [Concomitant]
     Active Substance: CALCITONIN SALMON
     Dosage: UNK; ;
     Route: 065
  537. CALCITONIN SALMON [Concomitant]
     Active Substance: CALCITONIN SALMON
     Dosage: UNK; ;
     Route: 065
  538. CALCITONIN SALMON [Concomitant]
     Active Substance: CALCITONIN SALMON
     Dosage: UNK, QD
     Route: 048
     Dates: start: 20190103, end: 20191011
  539. CALCITONIN SALMON [Concomitant]
     Active Substance: CALCITONIN SALMON
     Dosage: UNK
     Route: 065
  540. CALCITONIN SALMON [Concomitant]
     Active Substance: CALCITONIN SALMON
     Dosage: UNK, BID
     Route: 048
     Dates: start: 20190103, end: 20191011
  541. CALCITONIN SALMON [Concomitant]
     Active Substance: CALCITONIN SALMON
     Dosage: UNK
     Route: 065
  542. CALCITONIN SALMON [Concomitant]
     Active Substance: CALCITONIN SALMON
     Dosage: UNK
     Route: 065
  543. CALCITONIN SALMON [Concomitant]
     Active Substance: CALCITONIN SALMON
     Dosage: UNK; ;
     Route: 065
  544. CALCITONIN SALMON [Concomitant]
     Active Substance: CALCITONIN SALMON
     Dosage: UNK; ;
     Route: 065
  545. MINERALS\VITAMINS [Concomitant]
     Active Substance: MINERALS\VITAMINS
     Indication: Prophylaxis
     Dosage: 1 DOSAGE FORM, QD
     Route: 048
     Dates: start: 20190104
  546. INFLUENZA VIRUS VACCINE [Concomitant]
     Active Substance: INFLUENZA VIRUS VACCINE
     Indication: Prophylaxis
     Dosage: UNK UNK, QD;
     Route: 065
     Dates: start: 20191112, end: 20191112
  547. INFLUENZA VIRUS VACCINE [Concomitant]
     Active Substance: INFLUENZA VIRUS VACCINE
     Dosage: 1 DOSAGE FORM (1 AMPULE), OD,
     Route: 065
     Dates: start: 20191112, end: 20191112
  548. INFLUENZA VIRUS VACCINE [Concomitant]
     Active Substance: INFLUENZA VIRUS VACCINE
     Dosage: UNK
     Route: 065
  549. INFLUENZA VIRUS VACCINE [Concomitant]
     Active Substance: INFLUENZA VIRUS VACCINE
     Dosage: UNK
     Route: 065
  550. INFLUENZA VIRUS VACCINE [Concomitant]
     Active Substance: INFLUENZA VIRUS VACCINE
     Dosage: UNK
     Route: 065
  551. INFLUENZA VIRUS VACCINE [Concomitant]
     Active Substance: INFLUENZA VIRUS VACCINE
     Dosage: UNK
     Route: 065
  552. MAGNESIUM [Concomitant]
     Active Substance: MAGNESIUM
     Indication: Product used for unknown indication
     Dosage: UNK
     Route: 048
     Dates: start: 20190105, end: 20190112
  553. CALCIUM ACETATE [Concomitant]
     Active Substance: CALCIUM ACETATE
     Indication: Malnutrition
     Dosage: UNK
     Route: 048
     Dates: start: 20191020, end: 20191029
  554. CALCIUM ACETATE [Concomitant]
     Active Substance: CALCIUM ACETATE
     Dosage: UNK, BID
     Route: 048
     Dates: start: 20191003, end: 20191011
  555. ASPIRIN [Concomitant]
     Active Substance: ASPIRIN
     Indication: Prophylaxis
     Dosage: 75 MILLIGRAM, QD
     Route: 048
  556. ASPIRIN [Concomitant]
     Active Substance: ASPIRIN
     Indication: Anaemia
     Dosage: 75 MILLIGRAM, QD
     Route: 048
  557. ASPIRIN [Concomitant]
     Active Substance: ASPIRIN
     Dosage: 75 MG, QD
     Route: 048
  558. ASPIRIN [Concomitant]
     Active Substance: ASPIRIN
     Dosage: 75 MILLIGRAM, QD
     Route: 048
  559. ASPIRIN [Concomitant]
     Active Substance: ASPIRIN
     Dosage: UNK
     Route: 065
  560. ASPIRIN [Concomitant]
     Active Substance: ASPIRIN
     Dosage: 75 MILLIGRAM, QD
     Route: 048
  561. ASPIRIN [Concomitant]
     Active Substance: ASPIRIN
     Dosage: UNK
     Route: 065
  562. ASPIRIN [Concomitant]
     Active Substance: ASPIRIN
     Dosage: 75 MILLIGRAM, QD
     Route: 048
  563. ASPIRIN [Concomitant]
     Active Substance: ASPIRIN
     Dosage: 75 MG, QD
     Route: 048
  564. ASPIRIN [Concomitant]
     Active Substance: ASPIRIN
     Dosage: 75 MG, QD
     Route: 048
  565. ASPIRIN [Concomitant]
     Active Substance: ASPIRIN
     Dosage: 75 MG, QD
     Route: 048
  566. ASPIRIN [Concomitant]
     Active Substance: ASPIRIN
     Dosage: 75 MG, QD
     Route: 048
  567. ASPIRIN [Concomitant]
     Active Substance: ASPIRIN
     Dosage: 75 MILLIGRAM, QD
     Route: 048
  568. ASPIRIN [Concomitant]
     Active Substance: ASPIRIN
     Dosage: UNK
     Route: 065
  569. ASPIRIN [Concomitant]
     Active Substance: ASPIRIN
     Dosage: 75 MG, QD
     Route: 048
  570. ASPIRIN [Concomitant]
     Active Substance: ASPIRIN
     Dosage: 75 MG, QD
     Route: 048
  571. ASPIRIN [Concomitant]
     Active Substance: ASPIRIN
     Dosage: UNK
     Route: 065
  572. ASPIRIN [Concomitant]
     Active Substance: ASPIRIN
     Dosage: 75 MILLIGRAM, QD
     Route: 048
  573. ASPIRIN [Concomitant]
     Active Substance: ASPIRIN
     Dosage: 75 MG, QD
     Route: 048
  574. ASPIRIN [Concomitant]
     Active Substance: ASPIRIN
     Dosage: 75 MG, QD
     Route: 048
  575. ASPIRIN [Concomitant]
     Active Substance: ASPIRIN
     Dosage: UNK
     Route: 065
  576. ASPIRIN [Concomitant]
     Active Substance: ASPIRIN
     Dosage: 75 MILLIGRAM, QD
     Route: 048
  577. ASPIRIN [Concomitant]
     Active Substance: ASPIRIN
     Dosage: UNK
     Route: 065
  578. ASPIRIN [Concomitant]
     Active Substance: ASPIRIN
     Dosage: 75 MILLIGRAM, QD
     Route: 048
  579. MANGANESE SULFATE [Concomitant]
     Active Substance: MANGANESE SULFATE
     Indication: Malnutrition
     Dosage: UNK UNK, QD, (UNK UNK, BID)
     Route: 048
     Dates: start: 20190103, end: 20191011
  580. MANGANESE SULFATE [Concomitant]
     Active Substance: MANGANESE SULFATE
     Dosage: UNK, BID
     Route: 048
     Dates: start: 20190103, end: 20191011
  581. MANGANESE SULFATE [Concomitant]
     Active Substance: MANGANESE SULFATE
     Dosage: UNK
  582. AUGMENTIN [Concomitant]
     Active Substance: AMOXICILLIN\CLAVULANATE POTASSIUM
     Indication: Product used for unknown indication
     Dosage: 625 MILLIGRAM;
     Route: 048
     Dates: start: 20190103, end: 20190106
  583. AUGMENTIN [Concomitant]
     Active Substance: AMOXICILLIN\CLAVULANATE POTASSIUM
     Dosage: 1.2 GRAM;
     Route: 042
     Dates: start: 20190102, end: 20190103
  584. AUGMENTIN [Concomitant]
     Active Substance: AMOXICILLIN\CLAVULANATE POTASSIUM
     Route: 048
     Dates: start: 20191003, end: 20191006
  585. AUGMENTIN [Concomitant]
     Active Substance: AMOXICILLIN\CLAVULANATE POTASSIUM
     Dosage: 1.2 G
     Route: 042
     Dates: start: 20191002, end: 20191003
  586. COTRIMOXAZOLE [Concomitant]
     Active Substance: SULFAMETHOXAZOLE\TRIMETHOPRIM
     Indication: Antifungal prophylaxis
     Dosage: 480 MILLIGRAM, OD
     Route: 048
     Dates: start: 20180817, end: 20191015
  587. COTRIMOXAZOLE [Concomitant]
     Active Substance: SULFAMETHOXAZOLE\TRIMETHOPRIM
     Indication: Antifungal prophylaxis
     Dosage: 480 MILLIGRAM, OD
     Route: 048
     Dates: start: 20180817, end: 20191015
  588. COTRIMOXAZOLE [Concomitant]
     Active Substance: SULFAMETHOXAZOLE\TRIMETHOPRIM
     Dosage: 480 MILLIGRAM, OD
     Route: 048
     Dates: start: 20180817, end: 20191015
  589. COTRIMOXAZOLE [Concomitant]
     Active Substance: SULFAMETHOXAZOLE\TRIMETHOPRIM
     Dosage: UNK; ;
     Route: 065
  590. COTRIMOXAZOLE [Concomitant]
     Active Substance: SULFAMETHOXAZOLE\TRIMETHOPRIM
     Dosage: UNK
     Route: 065
  591. SODIUM FLUORIDE [Concomitant]
     Active Substance: SODIUM FLUORIDE
     Indication: Malnutrition
     Dosage: 90 MILLILITER, QD
     Route: 048
     Dates: start: 20190103
  592. SODIUM FLUORIDE [Concomitant]
     Active Substance: SODIUM FLUORIDE
     Dosage: 90 ML, QD
     Route: 048
     Dates: start: 20190103
  593. SODIUM FLUORIDE [Concomitant]
     Active Substance: SODIUM FLUORIDE
     Dosage: UNK
     Route: 065
  594. SODIUM FLUORIDE [Concomitant]
     Active Substance: SODIUM FLUORIDE
     Dosage: UNK
     Route: 065
  595. SODIUM FLUORIDE [Concomitant]
     Active Substance: SODIUM FLUORIDE
     Dosage: UNK
     Route: 065
  596. SODIUM FLUORIDE [Concomitant]
     Active Substance: SODIUM FLUORIDE
     Dosage: UNK
     Route: 065
  597. SODIUM FLUORIDE [Concomitant]
     Active Substance: SODIUM FLUORIDE
     Dosage: UNK
     Route: 065
  598. SODIUM FLUORIDE [Concomitant]
     Active Substance: SODIUM FLUORIDE
     Dosage: UNK
     Route: 065
  599. SODIUM FLUORIDE [Concomitant]
     Active Substance: SODIUM FLUORIDE
     Dosage: UNK
     Route: 065
  600. SODIUM FLUORIDE [Concomitant]
     Active Substance: SODIUM FLUORIDE
     Dosage: UNK
     Route: 065
  601. SODIUM FLUORIDE [Concomitant]
     Active Substance: SODIUM FLUORIDE
     Dosage: UNK
     Route: 065
  602. SODIUM FLUORIDE [Concomitant]
     Active Substance: SODIUM FLUORIDE
     Dosage: UNK
     Route: 065
  603. SODIUM FLUORIDE [Concomitant]
     Active Substance: SODIUM FLUORIDE
     Dosage: UNK
     Route: 065
  604. SODIUM FLUORIDE [Concomitant]
     Active Substance: SODIUM FLUORIDE
     Dosage: UNK
     Route: 065
  605. SODIUM FLUORIDE [Concomitant]
     Active Substance: SODIUM FLUORIDE
     Dosage: UNK
     Route: 065
  606. SODIUM FLUORIDE [Concomitant]
     Active Substance: SODIUM FLUORIDE
     Dosage: UNK
     Route: 065
  607. CHOLECALCIFEROL [Concomitant]
     Active Substance: CHOLECALCIFEROL
     Indication: Prophylaxis
     Dosage: UNK, BID
     Route: 048
     Dates: start: 20190103, end: 20191011
  608. CHOLECALCIFEROL [Concomitant]
     Active Substance: CHOLECALCIFEROL
     Indication: Malnutrition
     Dosage: UNK, QD
     Route: 048
     Dates: start: 20190212, end: 20191015
  609. CHOLECALCIFEROL [Concomitant]
     Active Substance: CHOLECALCIFEROL
     Indication: Bone disorder
     Dosage: UNK, QD
     Route: 048
     Dates: start: 20191016, end: 20191029
  610. CHOLECALCIFEROL [Concomitant]
     Active Substance: CHOLECALCIFEROL
     Dosage: UNK UNK, BID
     Route: 048
     Dates: start: 20190103, end: 20191011
  611. CHOLECALCIFEROL [Concomitant]
     Active Substance: CHOLECALCIFEROL
     Dosage: UNK
     Route: 065
  612. CHOLECALCIFEROL [Concomitant]
     Active Substance: CHOLECALCIFEROL
     Dosage: UNK, BID
     Route: 048
     Dates: start: 20190212, end: 20191015
  613. CHOLECALCIFEROL [Concomitant]
     Active Substance: CHOLECALCIFEROL
     Dosage: UNK
     Route: 065
  614. CHOLECALCIFEROL [Concomitant]
     Active Substance: CHOLECALCIFEROL
     Dosage: UNK
     Route: 065
  615. CHOLECALCIFEROL [Concomitant]
     Active Substance: CHOLECALCIFEROL
     Dosage: UNK
     Route: 065
  616. CHOLECALCIFEROL [Concomitant]
     Active Substance: CHOLECALCIFEROL
     Dosage: UNK
     Route: 065
  617. CHOLECALCIFEROL [Concomitant]
     Active Substance: CHOLECALCIFEROL
     Dosage: UNK
     Route: 065
  618. CHOLECALCIFEROL [Concomitant]
     Active Substance: CHOLECALCIFEROL
     Dosage: UNK
     Route: 065
  619. CHOLECALCIFEROL [Concomitant]
     Active Substance: CHOLECALCIFEROL
     Dosage: UNK
     Route: 065
  620. CHOLECALCIFEROL [Concomitant]
     Active Substance: CHOLECALCIFEROL
     Dosage: UNK
     Route: 065
  621. CHOLECALCIFEROL [Concomitant]
     Active Substance: CHOLECALCIFEROL
     Dosage: UNK
     Route: 065
  622. CALCIUM CARBONATE [Concomitant]
     Active Substance: CALCIUM CARBONATE
     Indication: Malnutrition
     Route: 048
     Dates: start: 20190103, end: 20191011
  623. TRIPTORELIN [Concomitant]
     Active Substance: TRIPTORELIN
     Indication: Prostate cancer
     Dosage: 45 MILLIGRAM, (1 DOSE YEARLY, 11.25 MG)
     Route: 065
     Dates: start: 20190515
  624. TRIPTORELIN [Concomitant]
     Active Substance: TRIPTORELIN
     Dosage: 18.247 MILLIGRAM
     Route: 065
  625. MEGACE [Concomitant]
     Active Substance: MEGESTROL ACETATE
     Indication: Malnutrition
     Dosage: 15 MILLILITER, QD
     Route: 048
     Dates: start: 20191019
  626. MEGACE [Concomitant]
     Active Substance: MEGESTROL ACETATE
     Dosage: 15 MILLILITER, QD
     Route: 048
     Dates: start: 20191011
  627. MEGACE [Concomitant]
     Active Substance: MEGESTROL ACETATE
     Dosage: 7.5 MILLILITER, QD
     Route: 048
     Dates: start: 20191011
  628. MYCOSTATIN [Concomitant]
     Active Substance: NYSTATIN
     Indication: Prophylaxis
     Dosage: 1 DOSAGE FORM, UNK, 3 IN 1 DAY
     Route: 048
     Dates: start: 20190104
  629. MYCOSTATIN [Concomitant]
     Active Substance: NYSTATIN
     Indication: Tongue coated
     Dosage: 1 DOSAGE FORM
     Route: 048
  630. MYCOSTATIN [Concomitant]
     Active Substance: NYSTATIN
     Dosage: 1 MILLILITER, TID (3 ML, QD)
     Route: 048
     Dates: start: 20191116
  631. MYCOSTATIN [Concomitant]
     Active Substance: NYSTATIN
     Route: 048
  632. SODIUM PHOSPHATE [Concomitant]
     Active Substance: SODIUM PHOSPHATE
     Indication: Product used for unknown indication
     Route: 065
     Dates: start: 20190107, end: 20190112
  633. CALCIUM\CHOLECALCIFEROL [Concomitant]
     Active Substance: CALCIUM\CHOLECALCIFEROL
     Indication: Malnutrition
     Dosage: UNK UNK, QD
     Dates: start: 20191020, end: 20191029
  634. CALCIUM\CHOLECALCIFEROL [Concomitant]
     Active Substance: CALCIUM\CHOLECALCIFEROL
     Dosage: UNK UNK, QD
     Dates: start: 20191003, end: 20191011
  635. CALCIUM\CHOLECALCIFEROL [Concomitant]
     Active Substance: CALCIUM\CHOLECALCIFEROL
     Dosage: UNK
     Dates: start: 20191020
  636. DIETARY SUPPLEMENT [Concomitant]
     Active Substance: DIETARY SUPPLEMENT
     Indication: Malnutrition
     Dosage: UNK
     Route: 048
     Dates: start: 20191117
  637. DIETARY SUPPLEMENT [Concomitant]
     Active Substance: DIETARY SUPPLEMENT
     Dosage: 90 ML, QD
     Route: 048
     Dates: start: 20190103, end: 20191111
  638. DIETARY SUPPLEMENT [Concomitant]
     Active Substance: DIETARY SUPPLEMENT
     Dosage: 1 CARTON, QD
     Route: 048
     Dates: start: 20190102, end: 20191029
  639. DIETARY SUPPLEMENT [Concomitant]
     Active Substance: DIETARY SUPPLEMENT
     Dosage: UNK UNK, QD
     Route: 048
     Dates: start: 20190103, end: 20191111
  640. DIETARY SUPPLEMENT [Concomitant]
     Active Substance: DIETARY SUPPLEMENT
     Dosage: UNK
     Route: 065
  641. DIETARY SUPPLEMENT [Concomitant]
     Active Substance: DIETARY SUPPLEMENT
     Dosage: UNK, QD
     Route: 048
     Dates: start: 20191117
  642. DIETARY SUPPLEMENT [Concomitant]
     Active Substance: DIETARY SUPPLEMENT
     Dosage: 90 MILLILITER
     Route: 048
     Dates: start: 20190103
  643. DIETARY SUPPLEMENT [Concomitant]
     Active Substance: DIETARY SUPPLEMENT
     Dosage: UNK
     Route: 065
  644. VITAMINS [Concomitant]
     Active Substance: VITAMINS
     Indication: Prophylaxis
     Dosage: UNK UNK, QD;
     Route: 048
     Dates: start: 20190104
  645. DECAPEPTYL-CR [Concomitant]
     Indication: Prostate cancer
     Dosage: 45 MILLIGRAM;
     Route: 065
     Dates: start: 20190515
  646. DECAPEPTYL-CR [Concomitant]
     Route: 065
  647. DECAPEPTYL-CR [Concomitant]
     Route: 065
  648. PANTOPRAZOLE SODIUM [Concomitant]
     Active Substance: PANTOPRAZOLE SODIUM
     Indication: Prophylaxis
     Dosage: 80 MILLIGRAM, QD
     Route: 048
     Dates: start: 20191016
  649. PANTOPRAZOLE SODIUM [Concomitant]
     Active Substance: PANTOPRAZOLE SODIUM
     Dosage: 40 MILLIGRAM, BID (80 MG, QD)
     Route: 048
     Dates: start: 20191016
  650. PANTOPRAZOLE SODIUM [Concomitant]
     Active Substance: PANTOPRAZOLE SODIUM
     Dosage: 20 MILLIGRAM, QD
     Route: 048
     Dates: start: 20190102, end: 20190102
  651. PANTOPRAZOLE SODIUM [Concomitant]
     Active Substance: PANTOPRAZOLE SODIUM
     Dosage: 20 MILLIGRAM, OD
     Route: 048
     Dates: start: 20190102, end: 20191015
  652. PANTOPRAZOLE SODIUM [Concomitant]
     Active Substance: PANTOPRAZOLE SODIUM
     Dosage: UNK UNK, QD
     Route: 048
     Dates: start: 20191020, end: 20191020
  653. PANTOPRAZOLE SODIUM [Concomitant]
     Active Substance: PANTOPRAZOLE SODIUM
     Dosage: 80 MILLIGRAM, QD
     Route: 048
     Dates: start: 20191016
  654. ZODORM [ZOLPIDEM TARTRATE] [Concomitant]
     Indication: Prophylaxis
     Dosage: 10 MILLIGRAM, UNK
     Route: 048
     Dates: start: 20180816, end: 20191029
  655. ZODORM [ZOLPIDEM TARTRATE] [Concomitant]
     Dosage: 10 MILLIGRAM, UNK
     Route: 048
     Dates: start: 20180819, end: 20191029
  656. BEMIN [THIAMINE HYDROCHLORIDE] [Concomitant]
     Indication: Product used for unknown indication
     Dosage: 300 MILLIGRAM
     Route: 048
     Dates: start: 20190105, end: 20190112
  657. MAGLAX [MAGNESIUM OXIDE] [Concomitant]
     Indication: Malnutrition
     Route: 048
     Dates: start: 20190103, end: 20191011
  658. XYLOCAINA [LIDOCAINE] [Concomitant]
     Indication: Tongue coated
     Dosage: 10 MILLILITER, TID
     Route: 048
     Dates: start: 20191116, end: 20191220
  659. XYLOCAINA [LIDOCAINE] [Concomitant]
     Dosage: 30 MILLILITER
     Route: 048
     Dates: start: 20191116, end: 20191220
  660. XYLOCAINA [LIDOCAINE] [Concomitant]
     Dosage: UNK, OD
     Route: 048
     Dates: start: 20190103, end: 20191011
  661. XYLOCAINA [LIDOCAINE] [Concomitant]
     Dosage: 90 ML, QD, (30 MILLILITER, TID)
     Route: 048
     Dates: start: 20191116, end: 20191220
  662. CORVITOL [METOPROLOL] [Concomitant]
     Indication: Hypertension
     Dosage: 25 MILLIGRAM, BID (1 DOSE 12 HOURS)
     Route: 048
  663. CORVITOL [METOPROLOL] [Concomitant]
     Dosage: 50 MILLIGRAM, QD
     Route: 048
  664. CORVITOL [METOPROLOL] [Concomitant]
     Dosage: 50 MILLIGRAM, QD
     Route: 048
  665. CORVITOL [METOPROLOL] [Concomitant]
     Dosage: 50 MILLIGRAM, QD
     Route: 048
  666. CORVITOL [METOPROLOL] [Concomitant]
     Dosage: 25 MILLIGRAM
     Route: 048
  667. CORVITOL [METOPROLOL] [Concomitant]
     Dosage: 50 MILLIGRAM, QD
     Route: 065
  668. CORVITOL [METOPROLOL] [Concomitant]
     Dosage: 50 MILLIGRAM, BID
     Route: 048
  669. CORVITOL [METOPROLOL] [Concomitant]
     Dosage: 50 MILLIGRAM, QD
     Route: 065
  670. CORVITOL [METOPROLOL] [Concomitant]
     Dosage: 50 MILLIGRAM, QD
     Route: 048
  671. CORVITOL [METOPROLOL] [Concomitant]
     Dosage: 50 MILLIGRAM, QD
     Route: 048
  672. CORVITOL [METOPROLOL] [Concomitant]
     Dosage: 25 MILLIGRAM
     Route: 048
  673. CORVITOL [METOPROLOL] [Concomitant]
     Dosage: 25 MILLIGRAM, BID (1 DOSE 12 HOURS)
     Route: 048
  674. CORVITOL [METOPROLOL] [Concomitant]
     Dosage: 50 MILLIGRAM, QD
     Route: 048
  675. CORVITOL [METOPROLOL] [Concomitant]
     Dosage: 25 MILLIGRAM
     Route: 048
  676. CORVITOL [METOPROLOL] [Concomitant]
     Dosage: 50 MILLIGRAM, QD
     Route: 048
  677. CORVITOL [METOPROLOL] [Concomitant]
     Dosage: 50 MILLIGRAM, QD
     Route: 048
  678. CORVITOL [METOPROLOL] [Concomitant]
     Dosage: 25 MG
     Route: 048
  679. CORVITOL [METOPROLOL] [Concomitant]
     Dosage: 25 MG, BID
     Route: 048
  680. CORVITOL [METOPROLOL] [Concomitant]
     Dosage: 50 MG, QD
     Route: 048
  681. CORVITOL [METOPROLOL] [Concomitant]
     Dosage: 25 MG, BID (25 MG, 1 DOSE 12 HOURS)
     Route: 048
  682. CORVITOL [METOPROLOL] [Concomitant]
     Dosage: 50 MG, QD
     Route: 048
  683. CORVITOL [METOPROLOL] [Concomitant]
     Dosage: 50 MG, QD
     Route: 048
  684. CORVITOL [METOPROLOL] [Concomitant]
     Dosage: 25 MG (1 DOSE, 12 HRS)
     Route: 048
  685. CORVITOL [METOPROLOL] [Concomitant]
     Dosage: 50 MILLIGRAM
     Route: 048
  686. CORVITOL [METOPROLOL] [Concomitant]
     Dosage: 50 MG, QD
     Route: 048
  687. CORVITOL [METOPROLOL] [Concomitant]
     Dosage: 25 MG (1 DOSE, 12 HRS)
     Route: 048
  688. CORVITOL [METOPROLOL] [Concomitant]
     Dosage: 25 MILLIGRAM, BID
     Route: 048
  689. CORVITOL [METOPROLOL] [Concomitant]
     Dosage: 50 MILLIGRAM, QD
     Route: 048
  690. CORVITOL [METOPROLOL] [Concomitant]
     Dosage: 50 MILLIGRAM, QD
     Route: 048
  691. CORVITOL [METOPROLOL] [Concomitant]
     Dosage: 50 MILLIGRAM, QD
     Route: 048
  692. CORVITOL [METOPROLOL] [Concomitant]
     Dosage: 25 MILLIGRAM, BID
     Route: 048
  693. CORVITOL [METOPROLOL] [Concomitant]
     Dosage: 50 MILLIGRAM, QD
     Route: 048
  694. CORVITOL [METOPROLOL] [Concomitant]
     Dosage: 25 MILLIGRAM, BID
     Route: 048
  695. CORVITOL [METOPROLOL] [Concomitant]
     Dosage: 25 MILLIGRAM, BID
     Route: 048
  696. CORVITOL [METOPROLOL] [Concomitant]
     Dosage: 50 MG, QD
     Route: 048
  697. CORVITOL [METOPROLOL] [Concomitant]
     Dosage: 25 MG
     Route: 048
  698. CORVITOL [METOPROLOL] [Concomitant]
     Dosage: 25 MG, Q12H
     Route: 048
  699. CORVITOL [METOPROLOL] [Concomitant]
     Dosage: 50 MG, QD, (25 MG, BID)
     Route: 048
  700. CORVITOL [METOPROLOL] [Concomitant]
     Dosage: 50 MG, QD
     Route: 048
  701. CORVITOL [METOPROLOL] [Concomitant]
     Dosage: 50 MG, QD
     Route: 048
  702. CORVITOL [METOPROLOL] [Concomitant]
     Dosage: 50 MG, QD
     Route: 048
  703. CORVITOL [METOPROLOL] [Concomitant]
     Dosage: 50 MG, QD
     Route: 048
  704. CORVITOL [METOPROLOL] [Concomitant]
     Dosage: 25 MG, BID
     Route: 048
  705. CORVITOL [METOPROLOL] [Concomitant]
     Dosage: 25 MG, BID (25 MG, 1 DOSE 12 HOURS)
     Route: 048
  706. CORVITOL [METOPROLOL] [Concomitant]
     Dosage: 50 MG, QD
     Route: 048
  707. CORVITOL [METOPROLOL] [Concomitant]
     Dosage: 25 MG
     Route: 048
  708. CORVITOL [METOPROLOL] [Concomitant]
     Route: 065
  709. CORVITOL [METOPROLOL] [Concomitant]
     Route: 065
  710. CORVITOL [METOPROLOL] [Concomitant]
     Dosage: 50 MG, QD
     Route: 048
  711. CORVITOL [METOPROLOL] [Concomitant]
     Dosage: 50 MG, QD, (25 MG, BID)
     Route: 048
  712. CORVITOL [METOPROLOL] [Concomitant]
     Dosage: 25 MG
     Route: 048
  713. CORVITOL [METOPROLOL] [Concomitant]
     Dosage: 50 MG, QD
     Route: 048
  714. CORVITOL [METOPROLOL] [Concomitant]
     Dosage: 25 MG, Q12H
     Route: 048
  715. CORVITOL [METOPROLOL] [Concomitant]
     Dosage: 50 MG, QD
     Route: 048
  716. CORVITOL [METOPROLOL] [Concomitant]
     Dosage: 50 MG, QD
     Route: 048
  717. CORVITOL [METOPROLOL] [Concomitant]
     Dosage: 50 MG, QD
     Route: 048
  718. CORVITOL [METOPROLOL] [Concomitant]
     Dosage: 50 MG, QD
     Route: 048
  719. CORVITOL [METOPROLOL] [Concomitant]
     Dosage: 25 MG, BID
     Route: 048
  720. CORVITOL [METOPROLOL] [Concomitant]
     Dosage: 25 MG, BID (25 MG, 1 DOSE 12 HOURS)
     Route: 048
  721. CORVITOL [METOPROLOL] [Concomitant]
     Dosage: 25 MG
     Route: 048
  722. CORVITOL [METOPROLOL] [Concomitant]
     Dosage: 50 MILLIGRAM, QD
     Route: 048
  723. CORVITOL [METOPROLOL] [Concomitant]
     Dosage: 50 MILLIGRAM, QD
     Route: 048
  724. CORVITOL [METOPROLOL] [Concomitant]
     Dosage: 50 MILLIGRAM, QD
     Route: 065
  725. CORVITOL [METOPROLOL] [Concomitant]
     Dosage: 25 MILLIGRAM, BID (1 DOSE 12 HOURS)
     Route: 048
  726. CORVITOL [METOPROLOL] [Concomitant]
     Dosage: 50 MILLIGRAM, QD
     Route: 048
  727. CORVITOL [METOPROLOL] [Concomitant]
     Dosage: 25 MILLIGRAM
     Route: 048
  728. CORVITOL [METOPROLOL] [Concomitant]
     Dosage: 50 MG, QD
     Route: 048
  729. CORVITOL [METOPROLOL] [Concomitant]
     Dosage: 25 MG
     Route: 048
  730. CORVITOL [METOPROLOL] [Concomitant]
     Dosage: 25 MG, BID (25 MG, 1 DOSE 12 HOURS)
     Route: 048
  731. CORVITOL [METOPROLOL] [Concomitant]
     Dosage: 50 MG, QD
     Route: 048
  732. CORVITOL [METOPROLOL] [Concomitant]
     Dosage: 50 MG, QD
     Route: 048
  733. CORVITOL [METOPROLOL] [Concomitant]
     Dosage: 25 MG, BID
     Route: 048
  734. CORVITOL [METOPROLOL] [Concomitant]
     Dosage: 50 MG, QD
     Route: 048
  735. CORVITOL [METOPROLOL] [Concomitant]
     Dosage: 50 MG, QD
     Route: 048
  736. CORVITOL [METOPROLOL] [Concomitant]
     Dosage: 50 MG, QD
     Route: 048
  737. CORVITOL [METOPROLOL] [Concomitant]
     Dosage: 25 MG (1 DOSE, 12 HRS)
     Route: 048
  738. CORVITOL [METOPROLOL] [Concomitant]
     Dosage: 25 MILLIGRAM
     Route: 048
  739. CORVITOL [METOPROLOL] [Concomitant]
     Dosage: 25 MILLIGRAM, BID (1 DOSE 12 HOURS)
     Route: 048
  740. CORVITOL [METOPROLOL] [Concomitant]
     Dosage: 50 MILLIGRAM, QD
     Route: 048
  741. CORVITOL [METOPROLOL] [Concomitant]
     Dosage: 50 MILLIGRAM, QD
     Route: 048
  742. CORVITOL [METOPROLOL] [Concomitant]
     Dosage: 50 MILLIGRAM, QD
     Route: 065
  743. CORVITOL [METOPROLOL] [Concomitant]
     Dosage: 50 MILLIGRAM, QD
     Route: 048
  744. CORVITOL [METOPROLOL] [Concomitant]
     Dosage: 25 MG, Q12H
     Route: 048
  745. CORVITOL [METOPROLOL] [Concomitant]
     Dosage: 50 MG, QD, (25 MG, BID)
     Route: 048
  746. CORVITOL [METOPROLOL] [Concomitant]
     Dosage: 50 MG, QD
     Route: 048
  747. CORVITOL [METOPROLOL] [Concomitant]
     Dosage: 25 MG
     Route: 048
  748. CORVITOL [METOPROLOL] [Concomitant]
     Dosage: 50 MG, QD
     Route: 048
  749. CORVITOL [METOPROLOL] [Concomitant]
     Dosage: 50 MG, QD
     Route: 048
  750. CORVITOL [METOPROLOL] [Concomitant]
     Dosage: 25 MG, Q12H
     Route: 048
  751. CORVITOL [METOPROLOL] [Concomitant]
     Dosage: 25 MG
     Route: 048
  752. CORVITOL [METOPROLOL] [Concomitant]
     Dosage: 50 MG, QD
     Route: 048
  753. CORVITOL [METOPROLOL] [Concomitant]
     Dosage: 50 MG, QD, (25 MG, BID)
     Route: 048
  754. CORVITOL [METOPROLOL] [Concomitant]
     Dosage: 50 MG, QD
     Route: 048
  755. CORVITOL [METOPROLOL] [Concomitant]
     Dosage: 50 MG, QD
     Route: 048
  756. CORVITOL [METOPROLOL] [Concomitant]
     Dosage: 50 MILLIGRAM, QD
     Route: 048
  757. CORVITOL [METOPROLOL] [Concomitant]
     Dosage: 50 MILLIGRAM, QD
     Route: 065
  758. CORVITOL [METOPROLOL] [Concomitant]
     Dosage: 25 MILLIGRAM, BID (1 DOSE 12 HOURS)
     Route: 048
  759. CORVITOL [METOPROLOL] [Concomitant]
     Dosage: 50 MILLIGRAM, QD
     Route: 048
  760. CORVITOL [METOPROLOL] [Concomitant]
     Dosage: 25 MILLIGRAM
     Route: 048
  761. CORVITOL [METOPROLOL] [Concomitant]
     Dosage: 50 MILLIGRAM, QD
     Route: 048
  762. CORVITOL [METOPROLOL] [Concomitant]
     Dosage: 25 MILLIGRAM
     Route: 048
  763. CORVITOL [METOPROLOL] [Concomitant]
     Dosage: 50 MILLIGRAM, QD
     Route: 048
  764. CORVITOL [METOPROLOL] [Concomitant]
     Dosage: 50 MILLIGRAM, QD
     Route: 065
  765. CORVITOL [METOPROLOL] [Concomitant]
     Dosage: 50 MILLIGRAM, BID
     Route: 048
  766. CORVITOL [METOPROLOL] [Concomitant]
     Dosage: 25 MILLIGRAM
     Route: 048
  767. CORVITOL [METOPROLOL] [Concomitant]
     Dosage: 50 MILLIGRAM, QD
     Route: 048
  768. CORVITOL [METOPROLOL] [Concomitant]
     Dosage: 50 MILLIGRAM, QD
     Route: 048
  769. CORVITOL [METOPROLOL] [Concomitant]
     Dosage: 25 MILLIGRAM
     Route: 048
  770. CORVITOL [METOPROLOL] [Concomitant]
     Dosage: 25 MILLIGRAM, BID (1 DOSE 12 HOURS)
     Route: 048
  771. CORVITOL [METOPROLOL] [Concomitant]
     Dosage: 50 MILLIGRAM, QD
  772. CORVITOL [METOPROLOL] [Concomitant]
     Dosage: 50 MILLIGRAM, QD
  773. CORVITOL [METOPROLOL] [Concomitant]
     Dosage: 25 MILLIGRAM, BID
  774. CORVITOL [METOPROLOL] [Concomitant]
     Dosage: 25 MILLIGRAM, BID
  775. CORVITOL [METOPROLOL] [Concomitant]
     Dosage: 50 MILLIGRAM, QD
  776. CORVITOL [METOPROLOL] [Concomitant]
     Dosage: 25 MILLIGRAM, BID
  777. CENTRUM PERFORMANCE [GINKGO BILOBA LEAF EXTRACT;MINERALS NOS;PANAX GIN [Concomitant]
     Indication: Prophylaxis
     Dosage: UNK
     Route: 065
  778. CENTRUM PERFORMANCE [GINKGO BILOBA LEAF EXTRACT;MINERALS NOS;PANAX GIN [Concomitant]
     Dosage: 1 DOSAGE FORM, QD
     Route: 048
     Dates: start: 20190104
  779. CENTRUM PERFORMANCE [GINKGO BILOBA LEAF EXTRACT;MINERALS NOS;PANAX GIN [Concomitant]
     Dosage: UNK UNK, QD
     Route: 048
     Dates: start: 20190104
  780. HYPOTEN [AMLODIPINE] [Concomitant]
     Indication: Hypertension
     Dosage: 10 MILLIGRAM, QD
     Route: 048
  781. HYPOTEN [AMLODIPINE] [Concomitant]
     Dosage: 10 MILLIGRAM, QD
     Route: 048
     Dates: end: 20191204
  782. HYPOTEN [AMLODIPINE] [Concomitant]
     Dosage: 10 MILLIGRAM, QD
     Route: 048
     Dates: end: 20191204
  783. HYPOTEN [AMLODIPINE] [Concomitant]
     Dosage: 10 MILLIGRAM, QD
     Route: 048
  784. HYPOTEN [AMLODIPINE] [Concomitant]
     Dosage: 10 MILLIGRAM, QD
     Route: 048
     Dates: start: 20191204
  785. HYPOTEN [AMLODIPINE] [Concomitant]
     Dosage: 10 MILLIGRAM, OD
     Route: 048
     Dates: start: 20191204, end: 20191204
  786. DECAPEPTYL (ACETATE) [Concomitant]
     Active Substance: TRIPTORELIN ACETATE
     Indication: Prostate cancer
     Dosage: UNK
     Route: 065
  787. DECAPEPTYL (ACETATE) [Concomitant]
     Active Substance: TRIPTORELIN ACETATE
     Dosage: 11.25 MILLIGRAM, Q12MO
     Route: 065
     Dates: start: 20190515
  788. DECAPEPTYL (ACETATE) [Concomitant]
     Active Substance: TRIPTORELIN ACETATE
     Dosage: 11.25 MILLIGRAM, QID
     Route: 065
     Dates: start: 20190515
  789. DECAPEPTYL (ACETATE) [Concomitant]
     Active Substance: TRIPTORELIN ACETATE
     Dosage: 18.247 MILLIGRAM
     Route: 065
  790. DECAPEPTYL (ACETATE) [Concomitant]
     Active Substance: TRIPTORELIN ACETATE
     Dosage: 45 MILLIGRAM, QMO (1 DOSE YEARLY, 11.25 MG)
     Route: 065
     Dates: start: 20190515
  791. DECAPEPTYL (ACETATE) [Concomitant]
     Active Substance: TRIPTORELIN ACETATE
     Dosage: UNK
     Route: 065
  792. DECAPEPTYL (ACETATE) [Concomitant]
     Active Substance: TRIPTORELIN ACETATE
     Dosage: 18.247 MILLIGRAM
     Route: 065
  793. DECAPEPTYL (ACETATE) [Concomitant]
     Active Substance: TRIPTORELIN ACETATE
     Dosage: 18.247 MILLIGRAM
     Route: 065
  794. DECAPEPTYL (ACETATE) [Concomitant]
     Active Substance: TRIPTORELIN ACETATE
     Dosage: UNK
     Route: 065
  795. HEXAVIT [VITAMINS NOS] [Concomitant]
     Indication: Prophylaxis
     Dosage: UNK UNK, QD
     Route: 048
     Dates: start: 20190104
  796. HEXAVIT [VITAMINS NOS] [Concomitant]
     Dosage: UNK UNK, QD
     Route: 048
     Dates: start: 20190103, end: 20191111
  797. HEXAVIT [VITAMINS NOS] [Concomitant]
     Dosage: UNK UNK, QD
     Route: 065
     Dates: start: 20190102, end: 20190129
  798. DIPHENHYDRAMINE;RETINOL;TRICLOCARBAN;VITAMIN D NOS;ZINC [Concomitant]
     Indication: Malnutrition
     Dosage: UNK, QD
     Route: 048
     Dates: start: 20190104
  799. DIPHENHYDRAMINE;RETINOL;TRICLOCARBAN;VITAMIN D NOS;ZINC [Concomitant]
     Indication: Prophylaxis
     Dosage: UNK UNK, BID
     Route: 065
     Dates: start: 20190103, end: 20191011
  800. DIPHENHYDRAMINE;RETINOL;TRICLOCARBAN;VITAMIN D NOS;ZINC [Concomitant]
     Dosage: UNK, QD
     Route: 048
     Dates: start: 20190104
  801. DIPHENHYDRAMINE;RETINOL;TRICLOCARBAN;VITAMIN D NOS;ZINC [Concomitant]
     Dosage: UNK, BID
     Route: 048
     Dates: start: 20190102, end: 20191029
  802. DIPHENHYDRAMINE;RETINOL;TRICLOCARBAN;VITAMIN D NOS;ZINC [Concomitant]
     Dosage: UNK, QD
     Route: 048
     Dates: start: 20190102, end: 20191029
  803. DIPHENHYDRAMINE;RETINOL;TRICLOCARBAN;VITAMIN D NOS;ZINC [Concomitant]
     Dosage: UNK UNK, BID
     Route: 048
     Dates: start: 20190103
  804. DIPHENHYDRAMINE;RETINOL;TRICLOCARBAN;VITAMIN D NOS;ZINC [Concomitant]
     Dosage: UNK UNK, QD
     Route: 065
     Dates: start: 20190102, end: 20190129
  805. DIPHENHYDRAMINE;RETINOL;TRICLOCARBAN;VITAMIN D NOS;ZINC [Concomitant]
     Dosage: UNK
     Route: 065
     Dates: start: 20190103, end: 20191011
  806. DIPHENHYDRAMINE;RETINOL;TRICLOCARBAN;VITAMIN D NOS;ZINC [Concomitant]
     Dosage: UNK UNK, BID
     Route: 048
     Dates: start: 20190103, end: 20191011
  807. MAGNOZONE [MAGNESIUM OXIDE] [Concomitant]
     Indication: Malnutrition
     Dosage: UNK UNK, BID
     Route: 048
     Dates: start: 20190103, end: 20191011
  808. MAGNOZONE [MAGNESIUM OXIDE] [Concomitant]
     Dosage: UNK
     Route: 065
  809. MAGNOZONE [MAGNESIUM OXIDE] [Concomitant]
     Dosage: UNK, UNK, QD
     Route: 048
     Dates: start: 20190103, end: 20191011
  810. MAGNOZONE [MAGNESIUM OXIDE] [Concomitant]
     Dosage: UNK
     Route: 065
  811. MAGNOZONE [MAGNESIUM OXIDE] [Concomitant]
     Dosage: UNK
     Route: 065
  812. MAGNOZONE [MAGNESIUM OXIDE] [Concomitant]
     Dosage: UNK
     Route: 065
  813. MAGNOZONE [MAGNESIUM OXIDE] [Concomitant]
     Dosage: UNK
     Route: 065
  814. MAGNOZONE [MAGNESIUM OXIDE] [Concomitant]
     Dosage: UNK
     Route: 065
  815. MAGNOZONE [MAGNESIUM OXIDE] [Concomitant]
     Dosage: UNK
     Route: 065
  816. MAGNOZONE [MAGNESIUM OXIDE] [Concomitant]
     Dosage: UNK
     Route: 065
  817. MAGNOZONE [MAGNESIUM OXIDE] [Concomitant]
     Dosage: UNK
     Route: 065
  818. MAGNOZONE [MAGNESIUM OXIDE] [Concomitant]
     Dosage: UNK
     Route: 065
  819. MAGNOZONE [MAGNESIUM OXIDE] [Concomitant]
     Dosage: UNK
     Route: 048
  820. MAGNOZONE [MAGNESIUM OXIDE] [Concomitant]
     Dosage: UNK
     Route: 048
  821. MAGNOZONE [MAGNESIUM OXIDE] [Concomitant]
     Dosage: UNK
     Route: 065
  822. MAGNOZONE [MAGNESIUM OXIDE] [Concomitant]
     Dosage: UNK, UNK, QD
     Route: 048
     Dates: start: 20190103, end: 20191011
  823. MAGNOZONE [MAGNESIUM OXIDE] [Concomitant]
     Dosage: UNK
     Route: 065
  824. PRIMODIL [AMLODIPINE] [Concomitant]
     Indication: Hypertension
     Dosage: 10 MILLIGRAM, QD
     Route: 048
     Dates: start: 20191204
  825. PRIMODIL [AMLODIPINE] [Concomitant]
     Dosage: 10 MILLIGRAM, QD
     Route: 048
  826. PRIMODIL [AMLODIPINE] [Concomitant]
     Dosage: 10 MILLIGRAM, OD
     Route: 048
     Dates: start: 20191204, end: 20191204
  827. PRIMODIL [AMLODIPINE] [Concomitant]
     Dosage: 10 MILLIGRAM, QD
     Route: 048
  828. PRIMODIL [AMLODIPINE] [Concomitant]
     Dosage: 10 MILLIGRAM, QD
     Route: 048
     Dates: end: 20191204
  829. PRIMODIL [AMLODIPINE] [Concomitant]
     Dosage: 10 MILLIGRAM, QD
     Route: 048
     Dates: start: 20191204
  830. PRIMODIL [AMLODIPINE] [Concomitant]
     Dosage: 10 MILLIGRAM, QD
     Route: 048
  831. PRIMODIL [AMLODIPINE] [Concomitant]
     Dosage: 10 MG, QD
     Route: 048
  832. PRIMODIL [AMLODIPINE] [Concomitant]
     Dosage: 10 MG, QD
     Route: 048
  833. PRIMODIL [AMLODIPINE] [Concomitant]
     Dosage: 10 MILLIGRAM, QD
     Route: 048
  834. PRIMODIL [AMLODIPINE] [Concomitant]
     Dosage: 10 MILLIGRAM, QD
     Route: 048
  835. PRIMODIL [AMLODIPINE] [Concomitant]
     Dosage: 10 MG, QD
     Route: 048
  836. PRIMODIL [AMLODIPINE] [Concomitant]
     Dosage: 10 MG, QD
     Route: 048
  837. PRIMODIL [AMLODIPINE] [Concomitant]
     Route: 065
  838. PRIMODIL [AMLODIPINE] [Concomitant]
     Route: 065
  839. PRIMODIL [AMLODIPINE] [Concomitant]
     Dosage: 10 MG, QD
     Route: 048
  840. PRIMODIL [AMLODIPINE] [Concomitant]
     Dosage: 10 MG, QD
     Route: 048
  841. PRIMODIL [AMLODIPINE] [Concomitant]
     Dosage: 10 MILLIGRAM, QD
     Route: 048
  842. PRIMODIL [AMLODIPINE] [Concomitant]
     Dosage: 10 MILLIGRAM, QD
     Route: 048
  843. PRIMODIL [AMLODIPINE] [Concomitant]
     Dosage: 10 MG, QD
     Route: 048
  844. PRIMODIL [AMLODIPINE] [Concomitant]
     Dosage: 10 MG, QD
     Route: 048
  845. PRIMODIL [AMLODIPINE] [Concomitant]
     Dosage: 10 MILLIGRAM, QD
     Route: 048
  846. PRIMODIL [AMLODIPINE] [Concomitant]
     Dosage: 10 MILLIGRAM, QD
     Route: 048
  847. PRIMODIL [AMLODIPINE] [Concomitant]
     Dosage: 10 MG, QD
     Route: 048
  848. PRIMODIL [AMLODIPINE] [Concomitant]
     Dosage: 10 MG, QD
     Route: 048
  849. PRIMODIL [AMLODIPINE] [Concomitant]
     Dosage: 10 MILLIGRAM, QD
     Route: 048
  850. PRIMODIL [AMLODIPINE] [Concomitant]
     Dosage: 10 MILLIGRAM, QD
     Route: 048
  851. PRIMODIL [AMLODIPINE] [Concomitant]
     Dosage: 10 MILLIGRAM, QD
     Route: 048
     Dates: end: 20191204
  852. PRIMODIL [AMLODIPINE] [Concomitant]
     Dosage: 10 MILLIGRAM, QD
     Route: 048
  853. PRIMODIL [AMLODIPINE] [Concomitant]
     Dosage: 10 MILLIGRAM, QD
     Route: 048
  854. SODIUM FLUORIDE [Concomitant]
     Active Substance: SODIUM FLUORIDE
     Indication: Malnutrition
     Dosage: 90 MILLILITER
     Route: 048
     Dates: start: 20190103
  855. altraplen protein [Concomitant]
     Indication: Malnutrition
     Dosage: 1 CARTON
     Route: 048
     Dates: start: 20191117
  856. DIETARY SUPPLEMENT [Concomitant]
     Active Substance: DIETARY SUPPLEMENT
     Indication: Malnutrition
     Dosage: 90 ML, QD
     Route: 048
     Dates: start: 20190103
  857. DIETARY SUPPLEMENT [Concomitant]
     Active Substance: DIETARY SUPPLEMENT
     Dosage: UNK UNK, QD
     Route: 048
     Dates: start: 20190103, end: 20191111
  858. DIETARY SUPPLEMENT [Concomitant]
     Active Substance: DIETARY SUPPLEMENT
     Dosage: 1 CARTON, QD
     Route: 048
     Dates: start: 20190102, end: 20191029
  859. FORTICAL [CALCIUM CARBONATE;COLECALCIFEROL;LYSINE HYDROCHLORIDE] [Concomitant]
     Indication: Product used for unknown indication
     Dosage: UNK
     Route: 065
  860. HYPOTEN [AMLODIPINE] [Concomitant]
     Indication: Hypertension
     Dosage: 10 MILLIGRAM, QD
  861. HYPOTEN [AMLODIPINE] [Concomitant]
     Dosage: 10 MILLIGRAM
  862. HYPOTEN [AMLODIPINE] [Concomitant]
     Dosage: 10 MILLIGRAM, QD
     Dates: start: 20191204, end: 20191204
  863. XYLOCAINA [LIDOCAINE] [Concomitant]
     Indication: Tongue coated
     Dosage: 30 MILLILITER, QD
     Dates: start: 20191116
  864. XYLOCAINA [LIDOCAINE] [Concomitant]
     Indication: Malnutrition
     Dosage: UNK, QD
     Dates: start: 20190103, end: 20191011
  865. XYLOCAINA [LIDOCAINE] [Concomitant]
     Dosage: 90 MILLILITER, QD
     Dates: start: 20191116, end: 20191220
  866. DOPPELHERZ AKTIV VITAMIN D [VITAMIN D NOS] [Concomitant]
     Indication: Malnutrition
     Dosage: UNK, QD
     Dates: start: 20190104
  867. DOPPELHERZ AKTIV VITAMIN D [VITAMIN D NOS] [Concomitant]
     Dosage: UNK, BID
     Dates: start: 20190102, end: 20191029
  868. DOPPELHERZ AKTIV VITAMIN D [VITAMIN D NOS] [Concomitant]
     Dosage: UNK, QD
     Dates: start: 20190103, end: 20191111
  869. DOPPELHERZ AKTIV VITAMIN D [VITAMIN D NOS] [Concomitant]
     Dosage: UNK, QD
     Dates: start: 20190102, end: 20190129
  870. DOPPELHERZ AKTIV VITAMIN D [VITAMIN D NOS] [Concomitant]
     Dosage: UNK, BID
     Dates: start: 20190102, end: 20191029
  871. DOPPELHERZ AKTIV VITAMIN D [VITAMIN D NOS] [Concomitant]
     Dosage: UNK, BID
     Dates: start: 20190103, end: 20191011
  872. DOPPELHERZ AKTIV VITAMIN D [VITAMIN D NOS] [Concomitant]
     Dosage: UNK, BID
     Dates: start: 20190104
  873. CHOLECALCIFEROL [Concomitant]
     Active Substance: CHOLECALCIFEROL
     Indication: Product used for unknown indication
     Dosage: UNK
     Route: 065
  874. LEVEMIR [Concomitant]
     Active Substance: INSULIN DETEMIR
     Indication: Product used for unknown indication
     Dosage: UNK
     Route: 065
  875. LEVEMIR [Concomitant]
     Active Substance: INSULIN DETEMIR
     Dosage: UNK
     Route: 065
  876. METHOTREXATE SODIUM [Concomitant]
     Active Substance: METHOTREXATE SODIUM
     Indication: Blood pressure abnormal
     Dosage: UNK
     Route: 065
  877. METHOTREXATE SODIUM [Concomitant]
     Active Substance: METHOTREXATE SODIUM
     Dosage: UNK
     Route: 065
  878. NOVORAPID [Concomitant]
     Active Substance: INSULIN ASPART
     Indication: Product used for unknown indication
     Dosage: UNK
     Route: 065
  879. NOVORAPID [Concomitant]
     Active Substance: INSULIN ASPART
     Dosage: UNK
     Route: 065
  880. METOCLOPRAMIDE HYDROCHLORIDE [Concomitant]
     Active Substance: METOCLOPRAMIDE HYDROCHLORIDE
     Indication: Product used for unknown indication
     Route: 065
  881. METOCLOPRAMIDE HYDROCHLORIDE [Concomitant]
     Active Substance: METOCLOPRAMIDE HYDROCHLORIDE
     Route: 065

REACTIONS (11)
  - Neutropenia [Recovered/Resolved]
  - Respiratory tract infection viral [Fatal]
  - Thrombocytopenia [Fatal]
  - Respiratory tract infection bacterial [Fatal]
  - Respiratory tract infection [Fatal]
  - Pulmonary embolism [Fatal]
  - COVID-19 [Fatal]
  - Anaemia [Recovered/Resolved]
  - Intentional product use issue [Unknown]
  - Full blood count abnormal [Unknown]
  - Malaise [Unknown]

NARRATIVE: CASE EVENT DATE: 20181008
